FAERS Safety Report 23094470 (Version 10)
Quarter: 2024Q3

REPORT INFORMATION
  Report Type: Spontaneous
  Country: CA (occurrence: CA)
  Receive Date: 20231023
  Receipt Date: 20240816
  Transmission Date: 20241017
  Serious: Yes (Death, Life-Threatening, Hospitalization, Disabling, Other)
  Sender: SANDOZ
  Company Number: CA-002147023-NVSC2022CA093891

PATIENT
  Age: 80 Year
  Sex: Male
  Weight: 68.998 kg

DRUGS (1057)
  1. ALLOPURINOL [Suspect]
     Active Substance: ALLOPURINOL
     Indication: Product used for unknown indication
     Dosage: 1 DF, QD
     Route: 048
  2. ALLOPURINOL [Suspect]
     Active Substance: ALLOPURINOL
     Dosage: 1 DF, QD
     Route: 048
  3. ALLOPURINOL [Suspect]
     Active Substance: ALLOPURINOL
     Indication: Intentional product misuse
     Dosage: 1 DF
     Route: 048
  4. ALLOPURINOL [Suspect]
     Active Substance: ALLOPURINOL
     Indication: Off label use
     Dosage: 100 MG, QD
     Route: 048
  5. ALLOPURINOL [Suspect]
     Active Substance: ALLOPURINOL
     Dosage: 100 MG, QD
     Route: 065
  6. ALLOPURINOL [Suspect]
     Active Substance: ALLOPURINOL
     Indication: Blood uric acid increased
     Dosage: 100 MG
     Route: 048
  7. ALLOPURINOL [Suspect]
     Active Substance: ALLOPURINOL
     Dosage: UNK
     Route: 065
  8. AMIODARONE [Suspect]
     Active Substance: AMIODARONE
     Dosage: 150 MG, QD
     Route: 042
  9. AMIODARONE [Suspect]
     Active Substance: AMIODARONE
     Indication: Ventricular fibrillation
     Dosage: 150 MG
     Route: 042
  10. AMIODARONE [Suspect]
     Active Substance: AMIODARONE
     Dosage: 150 MG
     Route: 042
  11. AMIODARONE [Suspect]
     Active Substance: AMIODARONE
     Dosage: 27.78 ML
     Route: 042
  12. AMIODARONE [Suspect]
     Active Substance: AMIODARONE
     Dosage: UNK UNK, QD
     Route: 042
  13. AMIODARONE [Suspect]
     Active Substance: AMIODARONE
     Dosage: UNK, QD
     Route: 042
  14. AMIODARONE [Suspect]
     Active Substance: AMIODARONE
     Dosage: UNK
     Route: 042
  15. AMIODARONE [Suspect]
     Active Substance: AMIODARONE
     Indication: Drug therapy
     Dosage: UNK
     Route: 065
  16. AMIODARONE HYDROCHLORIDE [Suspect]
     Active Substance: AMIODARONE HYDROCHLORIDE
     Indication: Drug therapy
     Dosage: 150 MG, QD
     Route: 042
  17. AMIODARONE HYDROCHLORIDE [Suspect]
     Active Substance: AMIODARONE HYDROCHLORIDE
     Indication: Intentional product misuse
     Dosage: 150 MG, QD
     Route: 042
  18. AMIODARONE HYDROCHLORIDE [Suspect]
     Active Substance: AMIODARONE HYDROCHLORIDE
     Dosage: 150 MG, QD
     Route: 065
  19. AMIODARONE HYDROCHLORIDE [Suspect]
     Active Substance: AMIODARONE HYDROCHLORIDE
     Dosage: UNK UNK, QD
     Route: 042
  20. AMIODARONE HYDROCHLORIDE [Suspect]
     Active Substance: AMIODARONE HYDROCHLORIDE
     Indication: Ventricular fibrillation
     Dosage: UNK, QD
     Route: 042
  21. AMIODARONE HYDROCHLORIDE [Suspect]
     Active Substance: AMIODARONE HYDROCHLORIDE
     Dosage: UNK
     Route: 042
  22. AMIODARONE HYDROCHLORIDE [Suspect]
     Active Substance: AMIODARONE HYDROCHLORIDE
     Dosage: UNK
     Route: 042
  23. AMIODARONE HYDROCHLORIDE [Suspect]
     Active Substance: AMIODARONE HYDROCHLORIDE
     Dosage: UNK
     Route: 042
  24. AMIODARONE HYDROCHLORIDE [Suspect]
     Active Substance: AMIODARONE HYDROCHLORIDE
     Dosage: UNK
     Route: 042
  25. AMIODARONE HYDROCHLORIDE [Suspect]
     Active Substance: AMIODARONE HYDROCHLORIDE
     Dosage: UNK
     Route: 042
  26. AMLODIPINE BESYLATE [Suspect]
     Active Substance: AMLODIPINE BESYLATE
     Indication: Product used for unknown indication
     Dosage: UNK
     Route: 065
  27. ASCORBIC ACID [Suspect]
     Active Substance: ASCORBIC ACID
     Dosage: 1 DF 1 EVERY 6 HOURS
     Route: 065
  28. ASCORBIC ACID [Suspect]
     Active Substance: ASCORBIC ACID
     Dosage: 12 G
     Route: 042
  29. ASCORBIC ACID [Suspect]
     Active Substance: ASCORBIC ACID
     Dosage: 17 G, QD
     Route: 048
  30. ASCORBIC ACID [Suspect]
     Active Substance: ASCORBIC ACID
     Dosage: 17 G, QD
     Route: 065
  31. ASCORBIC ACID [Suspect]
     Active Substance: ASCORBIC ACID
     Dosage: 2.5 ML
     Route: 042
  32. ASCORBIC ACID [Suspect]
     Active Substance: ASCORBIC ACID
     Dosage: 2.5 ML
     Route: 065
  33. ASCORBIC ACID [Suspect]
     Active Substance: ASCORBIC ACID
     Dosage: 3 G, QD
     Route: 048
  34. ASCORBIC ACID [Suspect]
     Active Substance: ASCORBIC ACID
     Dosage: 3 G, QD
     Route: 065
  35. ASCORBIC ACID [Suspect]
     Active Substance: ASCORBIC ACID
     Dosage: 12.5 UNK, QD
     Route: 065
  36. ASCORBIC ACID [Suspect]
     Active Substance: ASCORBIC ACID
     Dosage: UNK, QD
     Route: 048
  37. ASCORBIC ACID [Suspect]
     Active Substance: ASCORBIC ACID
     Indication: Nutritional supplementation
     Dosage: UNK
     Route: 065
  38. ACETAMINOPHEN [Suspect]
     Active Substance: ACETAMINOPHEN
     Dosage: 5 MG, QD
     Route: 042
  39. ACETAMINOPHEN [Suspect]
     Active Substance: ACETAMINOPHEN
     Indication: Analgesic therapy
     Dosage: 650 MG, QD
     Route: 048
  40. ACETAMINOPHEN [Suspect]
     Active Substance: ACETAMINOPHEN
     Indication: Off label use
     Dosage: 650 MG, QD
     Route: 048
  41. ACETAMINOPHEN [Suspect]
     Active Substance: ACETAMINOPHEN
     Indication: Product used for unknown indication
     Dosage: 650 MG, QD
     Route: 048
  42. ACETAMINOPHEN [Suspect]
     Active Substance: ACETAMINOPHEN
     Dosage: 650 MG, QD
     Route: 048
  43. ACETAMINOPHEN [Suspect]
     Active Substance: ACETAMINOPHEN
     Dosage: 650 MG, QD
     Route: 048
  44. ACETAMINOPHEN [Suspect]
     Active Substance: ACETAMINOPHEN
     Indication: Intentional product misuse
     Dosage: 650 MG
     Route: 048
  45. ACETAMINOPHEN [Suspect]
     Active Substance: ACETAMINOPHEN
     Dosage: UNK
     Route: 048
  46. ACETAMINOPHEN [Suspect]
     Active Substance: ACETAMINOPHEN
     Dosage: UNK
     Route: 065
  47. ACETAMINOPHEN [Suspect]
     Active Substance: ACETAMINOPHEN
     Dosage: UNK
     Route: 065
  48. ALLANTOIN [Suspect]
     Active Substance: ALLANTOIN
     Indication: Constipation
     Dosage: 17 G, QD
     Route: 048
  49. ALLANTOIN [Suspect]
     Active Substance: ALLANTOIN
     Dosage: 17 G, QD
     Route: 048
  50. ALLANTOIN [Suspect]
     Active Substance: ALLANTOIN
     Dosage: 17 G, QD
     Route: 048
  51. ALLANTOIN [Suspect]
     Active Substance: ALLANTOIN
     Dosage: 17 G, QD
     Route: 048
  52. ALLANTOIN [Suspect]
     Active Substance: ALLANTOIN
     Dosage: 17 G, QD
     Route: 048
  53. ALLANTOIN [Suspect]
     Active Substance: ALLANTOIN
     Dosage: UNK
     Route: 065
  54. ALLANTOIN [Suspect]
     Active Substance: ALLANTOIN
     Dosage: UNK
     Route: 065
  55. ALOE VERA LEAF [Suspect]
     Active Substance: ALOE VERA LEAF
     Indication: Constipation
     Dosage: 17 MG, QD
     Route: 065
  56. ALUMINUM HYDROXIDE\DIMETHICONE\MAGNESIUM HYDROXIDE [Suspect]
     Active Substance: ALUMINUM HYDROXIDE\DIMETHICONE\MAGNESIUM HYDROXIDE
     Dosage: 133 MG
     Route: 054
  57. ALUMINUM HYDROXIDE\DIMETHICONE\MAGNESIUM HYDROXIDE [Suspect]
     Active Substance: ALUMINUM HYDROXIDE\DIMETHICONE\MAGNESIUM HYDROXIDE
     Dosage: 133 MG
     Route: 054
  58. ALUMINUM HYDROXIDE\DIMETHICONE\MAGNESIUM HYDROXIDE [Suspect]
     Active Substance: ALUMINUM HYDROXIDE\DIMETHICONE\MAGNESIUM HYDROXIDE
     Dosage: 133 MG
     Route: 065
  59. ALUMINUM HYDROXIDE\DIMETHICONE\MAGNESIUM HYDROXIDE [Suspect]
     Active Substance: ALUMINUM HYDROXIDE\DIMETHICONE\MAGNESIUM HYDROXIDE
     Dosage: 133 MG
     Route: 065
  60. ALUMINUM HYDROXIDE\DIMETHICONE\MAGNESIUM HYDROXIDE [Suspect]
     Active Substance: ALUMINUM HYDROXIDE\DIMETHICONE\MAGNESIUM HYDROXIDE
     Dosage: 133 MG
     Route: 065
  61. ALUMINUM HYDROXIDE\DIMETHICONE\MAGNESIUM HYDROXIDE [Suspect]
     Active Substance: ALUMINUM HYDROXIDE\DIMETHICONE\MAGNESIUM HYDROXIDE
     Indication: Constipation
     Dosage: 133 ML
     Route: 054
  62. ALUMINUM HYDROXIDE\DIMETHICONE\MAGNESIUM HYDROXIDE [Suspect]
     Active Substance: ALUMINUM HYDROXIDE\DIMETHICONE\MAGNESIUM HYDROXIDE
     Dosage: 133 ML
     Route: 054
  63. ALUMINUM HYDROXIDE\DIMETHICONE\MAGNESIUM HYDROXIDE [Suspect]
     Active Substance: ALUMINUM HYDROXIDE\DIMETHICONE\MAGNESIUM HYDROXIDE
     Dosage: 133 ML
     Route: 054
  64. ALUMINUM HYDROXIDE\DIMETHICONE\MAGNESIUM HYDROXIDE [Suspect]
     Active Substance: ALUMINUM HYDROXIDE\DIMETHICONE\MAGNESIUM HYDROXIDE
     Dosage: UNK
     Route: 054
  65. ALUMINUM HYDROXIDE\MAGNESIUM HYDROXIDE [Suspect]
     Active Substance: ALUMINUM HYDROXIDE\MAGNESIUM HYDROXIDE
     Dosage: 133 MG
     Route: 054
  66. ALUMINUM HYDROXIDE\MAGNESIUM HYDROXIDE [Suspect]
     Active Substance: ALUMINUM HYDROXIDE\MAGNESIUM HYDROXIDE
     Dosage: 133 MG
     Route: 054
  67. ALUMINUM HYDROXIDE\MAGNESIUM HYDROXIDE [Suspect]
     Active Substance: ALUMINUM HYDROXIDE\MAGNESIUM HYDROXIDE
     Indication: Constipation
     Dosage: 133 MG
     Route: 065
  68. ALUMINUM HYDROXIDE\MAGNESIUM HYDROXIDE [Suspect]
     Active Substance: ALUMINUM HYDROXIDE\MAGNESIUM HYDROXIDE
     Dosage: 133 MG
     Route: 065
  69. ALUMINUM HYDROXIDE\MAGNESIUM HYDROXIDE [Suspect]
     Active Substance: ALUMINUM HYDROXIDE\MAGNESIUM HYDROXIDE
     Dosage: 133 MG
     Route: 065
  70. ALUMINUM HYDROXIDE\MAGNESIUM HYDROXIDE [Suspect]
     Active Substance: ALUMINUM HYDROXIDE\MAGNESIUM HYDROXIDE
     Dosage: 133 ML
     Route: 054
  71. ALUMINUM HYDROXIDE\MAGNESIUM HYDROXIDE [Suspect]
     Active Substance: ALUMINUM HYDROXIDE\MAGNESIUM HYDROXIDE
     Dosage: 133 ML
     Route: 054
  72. ALUMINUM HYDROXIDE\MAGNESIUM HYDROXIDE [Suspect]
     Active Substance: ALUMINUM HYDROXIDE\MAGNESIUM HYDROXIDE
     Dosage: 133 ML
     Route: 054
  73. ALUMINUM HYDROXIDE\MAGNESIUM HYDROXIDE [Suspect]
     Active Substance: ALUMINUM HYDROXIDE\MAGNESIUM HYDROXIDE
     Dosage: UNK
     Route: 054
  74. AMINOBENZOIC ACID [Suspect]
     Active Substance: AMINOBENZOIC ACID
     Indication: Product used for unknown indication
     Dosage: 12.5 MG
     Route: 065
  75. AMMONIUM CHLORIDE [Suspect]
     Active Substance: AMMONIUM CHLORIDE
     Dosage: 2.5 ML, QD
     Route: 048
  76. AMMONIUM CHLORIDE [Suspect]
     Active Substance: AMMONIUM CHLORIDE
     Indication: Thrombosis
     Dosage: 2.5 ML, PRN
     Route: 048
  77. AMMONIUM CHLORIDE [Suspect]
     Active Substance: AMMONIUM CHLORIDE
     Dosage: UNK
     Route: 065
  78. ANTICOAGULANT SODIUM CITRATE [Suspect]
     Active Substance: SODIUM CITRATE
     Dosage: 2.5 MG, QD
     Route: 065
  79. ANTICOAGULANT SODIUM CITRATE [Suspect]
     Active Substance: SODIUM CITRATE
     Indication: Thrombosis
     Dosage: 2.5 ML
     Route: 065
  80. ANTICOAGULANT SODIUM CITRATE [Suspect]
     Active Substance: SODIUM CITRATE
     Dosage: 2.5 ML, PRN
     Route: 065
  81. ARANESP [Suspect]
     Active Substance: DARBEPOETIN ALFA
     Dosage: 0.2 UG
     Route: 042
  82. ARANESP [Suspect]
     Active Substance: DARBEPOETIN ALFA
     Dosage: 0.2 UG
     Route: 042
  83. ARANESP [Suspect]
     Active Substance: DARBEPOETIN ALFA
     Dosage: 0.71 MG, QW
     Route: 017
  84. ARANESP [Suspect]
     Active Substance: DARBEPOETIN ALFA
     Dosage: 0.71 MG, Q2W
     Route: 065
  85. ARANESP [Suspect]
     Active Substance: DARBEPOETIN ALFA
     Dosage: 0.71 MG, Q2W
     Route: 065
  86. ARANESP [Suspect]
     Active Substance: DARBEPOETIN ALFA
     Dosage: 0.71 MG, Q2W
     Route: 065
  87. ARANESP [Suspect]
     Active Substance: DARBEPOETIN ALFA
     Dosage: 0.71 MG, Q2W
     Route: 065
  88. ARANESP [Suspect]
     Active Substance: DARBEPOETIN ALFA
     Dosage: 0.71 MG, Q2W
     Route: 065
  89. ARANESP [Suspect]
     Active Substance: DARBEPOETIN ALFA
     Dosage: 0.71 MG, Q2W
     Route: 065
  90. ARANESP [Suspect]
     Active Substance: DARBEPOETIN ALFA
     Dosage: 0.71 MG
     Route: 065
  91. ARANESP [Suspect]
     Active Substance: DARBEPOETIN ALFA
     Dosage: 0.71 MG, BIWEEKLY
     Route: 065
  92. ARANESP [Suspect]
     Active Substance: DARBEPOETIN ALFA
     Dosage: 0.71 UG, QD
     Route: 042
  93. ARANESP [Suspect]
     Active Substance: DARBEPOETIN ALFA
     Dosage: 0.714 MG, BIW
     Route: 042
  94. ARANESP [Suspect]
     Active Substance: DARBEPOETIN ALFA
     Dosage: 0.714 UG, Q2W
     Route: 042
  95. ARANESP [Suspect]
     Active Substance: DARBEPOETIN ALFA
     Dosage: 1.42 MG, QW
     Route: 065
  96. ARANESP [Suspect]
     Active Substance: DARBEPOETIN ALFA
     Dosage: 1.42 MG, QD
     Route: 065
  97. ARANESP [Suspect]
     Active Substance: DARBEPOETIN ALFA
     Indication: Anaemia
     Dosage: 10 MG, Q2W
     Route: 042
  98. ARANESP [Suspect]
     Active Substance: DARBEPOETIN ALFA
     Dosage: 10 MG, BIW
     Route: 042
  99. ARANESP [Suspect]
     Active Substance: DARBEPOETIN ALFA
     Dosage: 10 MG
     Route: 042
  100. ARANESP [Suspect]
     Active Substance: DARBEPOETIN ALFA
     Dosage: 10 MG
     Route: 042
  101. ARANESP [Suspect]
     Active Substance: DARBEPOETIN ALFA
     Dosage: 10 MG
     Route: 042
  102. ARANESP [Suspect]
     Active Substance: DARBEPOETIN ALFA
     Dosage: 10 MG
     Route: 065
  103. ARANESP [Suspect]
     Active Substance: DARBEPOETIN ALFA
     Dosage: 10 MG, CYCLIC
     Route: 042
  104. ARANESP [Suspect]
     Active Substance: DARBEPOETIN ALFA
     Dosage: 10 MG, CYCLIC
     Route: 042
  105. ARANESP [Suspect]
     Active Substance: DARBEPOETIN ALFA
     Dosage: 10 UG, Q2W
     Route: 042
  106. ARANESP [Suspect]
     Active Substance: DARBEPOETIN ALFA
     Dosage: 10 UG, Q2W
     Route: 042
  107. ARANESP [Suspect]
     Active Substance: DARBEPOETIN ALFA
     Dosage: 10 UG
     Route: 042
  108. ARANESP [Suspect]
     Active Substance: DARBEPOETIN ALFA
     Dosage: 10 UG
     Route: 042
  109. ARANESP [Suspect]
     Active Substance: DARBEPOETIN ALFA
     Dosage: 10 UG
     Route: 042
  110. ARANESP [Suspect]
     Active Substance: DARBEPOETIN ALFA
     Dosage: 10 UG
     Route: 042
  111. ARANESP [Suspect]
     Active Substance: DARBEPOETIN ALFA
     Dosage: 20 MG
     Route: 065
  112. ARANESP [Suspect]
     Active Substance: DARBEPOETIN ALFA
     Dosage: 20 UG, QW
     Route: 042
  113. ARANESP [Suspect]
     Active Substance: DARBEPOETIN ALFA
     Dosage: 1.42 UNK, QD
     Route: 042
  114. ARANESP [Suspect]
     Active Substance: DARBEPOETIN ALFA
     Dosage: UNK
     Route: 042
  115. ARANESP [Suspect]
     Active Substance: DARBEPOETIN ALFA
     Dosage: UNK
     Route: 065
  116. ASCORBIC ACID\POLYETHYLENE GLYCOL 3350\POTASSIUM CHLORIDE\SODIUM ASCOR [Suspect]
     Active Substance: ASCORBIC ACID\POLYETHYLENE GLYCOL 3350\POTASSIUM CHLORIDE\SODIUM ASCORBATE\SODIUM CHLORIDE\SODIUM SU
     Dosage: 1 DF, Q6H
     Route: 065
  117. ASCORBIC ACID\POLYETHYLENE GLYCOL 3350\POTASSIUM CHLORIDE\SODIUM ASCOR [Suspect]
     Active Substance: ASCORBIC ACID\POLYETHYLENE GLYCOL 3350\POTASSIUM CHLORIDE\SODIUM ASCORBATE\SODIUM CHLORIDE\SODIUM SU
     Dosage: 12 G
     Route: 042
  118. ASCORBIC ACID\POLYETHYLENE GLYCOL 3350\POTASSIUM CHLORIDE\SODIUM ASCOR [Suspect]
     Active Substance: ASCORBIC ACID\POLYETHYLENE GLYCOL 3350\POTASSIUM CHLORIDE\SODIUM ASCORBATE\SODIUM CHLORIDE\SODIUM SU
     Dosage: 12.5 G
     Route: 065
  119. ASCORBIC ACID\POLYETHYLENE GLYCOL 3350\POTASSIUM CHLORIDE\SODIUM ASCOR [Suspect]
     Active Substance: ASCORBIC ACID\POLYETHYLENE GLYCOL 3350\POTASSIUM CHLORIDE\SODIUM ASCORBATE\SODIUM CHLORIDE\SODIUM SU
     Dosage: 17 G, QD
     Route: 048
  120. ASCORBIC ACID\POLYETHYLENE GLYCOL 3350\POTASSIUM CHLORIDE\SODIUM ASCOR [Suspect]
     Active Substance: ASCORBIC ACID\POLYETHYLENE GLYCOL 3350\POTASSIUM CHLORIDE\SODIUM ASCORBATE\SODIUM CHLORIDE\SODIUM SU
     Dosage: 17 G, QD
     Route: 065
  121. ASCORBIC ACID\POLYETHYLENE GLYCOL 3350\POTASSIUM CHLORIDE\SODIUM ASCOR [Suspect]
     Active Substance: ASCORBIC ACID\POLYETHYLENE GLYCOL 3350\POTASSIUM CHLORIDE\SODIUM ASCORBATE\SODIUM CHLORIDE\SODIUM SU
     Indication: Iron deficiency
     Dosage: 17 G
     Route: 065
  122. ASCORBIC ACID\POLYETHYLENE GLYCOL 3350\POTASSIUM CHLORIDE\SODIUM ASCOR [Suspect]
     Active Substance: ASCORBIC ACID\POLYETHYLENE GLYCOL 3350\POTASSIUM CHLORIDE\SODIUM ASCORBATE\SODIUM CHLORIDE\SODIUM SU
     Dosage: 17 MG, QW
     Route: 048
  123. ASCORBIC ACID\POLYETHYLENE GLYCOL 3350\POTASSIUM CHLORIDE\SODIUM ASCOR [Suspect]
     Active Substance: ASCORBIC ACID\POLYETHYLENE GLYCOL 3350\POTASSIUM CHLORIDE\SODIUM ASCORBATE\SODIUM CHLORIDE\SODIUM SU
     Dosage: 17 MG, QD
     Route: 048
  124. ASCORBIC ACID\POLYETHYLENE GLYCOL 3350\POTASSIUM CHLORIDE\SODIUM ASCOR [Suspect]
     Active Substance: ASCORBIC ACID\POLYETHYLENE GLYCOL 3350\POTASSIUM CHLORIDE\SODIUM ASCORBATE\SODIUM CHLORIDE\SODIUM SU
     Indication: Constipation
     Dosage: 17 MG, QD
     Route: 065
  125. ASCORBIC ACID\POLYETHYLENE GLYCOL 3350\POTASSIUM CHLORIDE\SODIUM ASCOR [Suspect]
     Active Substance: ASCORBIC ACID\POLYETHYLENE GLYCOL 3350\POTASSIUM CHLORIDE\SODIUM ASCORBATE\SODIUM CHLORIDE\SODIUM SU
     Dosage: 17 MG
     Route: 048
  126. ASCORBIC ACID\POLYETHYLENE GLYCOL 3350\POTASSIUM CHLORIDE\SODIUM ASCOR [Suspect]
     Active Substance: ASCORBIC ACID\POLYETHYLENE GLYCOL 3350\POTASSIUM CHLORIDE\SODIUM ASCORBATE\SODIUM CHLORIDE\SODIUM SU
     Dosage: 17 MG
     Route: 048
  127. ASCORBIC ACID\POLYETHYLENE GLYCOL 3350\POTASSIUM CHLORIDE\SODIUM ASCOR [Suspect]
     Active Substance: ASCORBIC ACID\POLYETHYLENE GLYCOL 3350\POTASSIUM CHLORIDE\SODIUM ASCORBATE\SODIUM CHLORIDE\SODIUM SU
     Dosage: 2.5 ML, QW
     Route: 042
  128. ASCORBIC ACID\POLYETHYLENE GLYCOL 3350\POTASSIUM CHLORIDE\SODIUM ASCOR [Suspect]
     Active Substance: ASCORBIC ACID\POLYETHYLENE GLYCOL 3350\POTASSIUM CHLORIDE\SODIUM ASCORBATE\SODIUM CHLORIDE\SODIUM SU
     Dosage: 2.5 ML
     Route: 065
  129. ASCORBIC ACID\POLYETHYLENE GLYCOL 3350\POTASSIUM CHLORIDE\SODIUM ASCOR [Suspect]
     Active Substance: ASCORBIC ACID\POLYETHYLENE GLYCOL 3350\POTASSIUM CHLORIDE\SODIUM ASCORBATE\SODIUM CHLORIDE\SODIUM SU
     Dosage: 3 MG, QW
     Route: 048
  130. ASCORBIC ACID\POLYETHYLENE GLYCOL 3350\POTASSIUM CHLORIDE\SODIUM ASCOR [Suspect]
     Active Substance: ASCORBIC ACID\POLYETHYLENE GLYCOL 3350\POTASSIUM CHLORIDE\SODIUM ASCORBATE\SODIUM CHLORIDE\SODIUM SU
     Dosage: 3 MG, QW
     Route: 065
  131. ASCORBIC ACID\POLYETHYLENE GLYCOL 3350\POTASSIUM CHLORIDE\SODIUM ASCOR [Suspect]
     Active Substance: ASCORBIC ACID\POLYETHYLENE GLYCOL 3350\POTASSIUM CHLORIDE\SODIUM ASCORBATE\SODIUM CHLORIDE\SODIUM SU
     Dosage: 3 MG
     Route: 048
  132. ASCORBIC ACID\POLYETHYLENE GLYCOL 3350\POTASSIUM CHLORIDE\SODIUM ASCOR [Suspect]
     Active Substance: ASCORBIC ACID\POLYETHYLENE GLYCOL 3350\POTASSIUM CHLORIDE\SODIUM ASCORBATE\SODIUM CHLORIDE\SODIUM SU
     Indication: Nutritional supplementation
     Dosage: 5 MG
     Route: 042
  133. ASCORBIC ACID\POLYETHYLENE GLYCOL 3350\POTASSIUM CHLORIDE\SODIUM ASCOR [Suspect]
     Active Substance: ASCORBIC ACID\POLYETHYLENE GLYCOL 3350\POTASSIUM CHLORIDE\SODIUM ASCORBATE\SODIUM CHLORIDE\SODIUM SU
     Dosage: UNK, QD
     Route: 048
  134. ASCORBIC ACID\POLYETHYLENE GLYCOL 3350\POTASSIUM CHLORIDE\SODIUM ASCOR [Suspect]
     Active Substance: ASCORBIC ACID\POLYETHYLENE GLYCOL 3350\POTASSIUM CHLORIDE\SODIUM ASCORBATE\SODIUM CHLORIDE\SODIUM SU
     Dosage: UNK
     Route: 048
  135. ASCORBIC ACID\POLYETHYLENE GLYCOL 3350\POTASSIUM CHLORIDE\SODIUM ASCOR [Suspect]
     Active Substance: ASCORBIC ACID\POLYETHYLENE GLYCOL 3350\POTASSIUM CHLORIDE\SODIUM ASCORBATE\SODIUM CHLORIDE\SODIUM SU
     Dosage: UNK
     Route: 048
  136. ATROVENT [Suspect]
     Active Substance: IPRATROPIUM BROMIDE
     Dosage: 1 DF, Q6H
     Route: 050
  137. ATROVENT [Suspect]
     Active Substance: IPRATROPIUM BROMIDE
     Dosage: 1 DF, Q6H
     Route: 050
  138. ATROVENT [Suspect]
     Active Substance: IPRATROPIUM BROMIDE
     Dosage: 1 DF, Q8H
     Route: 050
  139. ATROVENT [Suspect]
     Active Substance: IPRATROPIUM BROMIDE
     Dosage: 1 DF
     Route: 050
  140. ATROVENT [Suspect]
     Active Substance: IPRATROPIUM BROMIDE
     Dosage: 1 DF
     Route: 050
  141. ATROVENT [Suspect]
     Active Substance: IPRATROPIUM BROMIDE
     Indication: Off label use
     Dosage: 1 DF
     Route: 055
  142. ATROVENT [Suspect]
     Active Substance: IPRATROPIUM BROMIDE
     Dosage: UNK, QD
     Route: 055
  143. ATROVENT [Suspect]
     Active Substance: IPRATROPIUM BROMIDE
     Indication: Dyspnoea
     Dosage: UNK, QD
     Route: 050
  144. ATROVENT [Suspect]
     Active Substance: IPRATROPIUM BROMIDE
     Dosage: UNK UNK, Q6H
     Route: 048
  145. ATROVENT [Suspect]
     Active Substance: IPRATROPIUM BROMIDE
     Dosage: UNK UNK, Q6H
     Route: 050
  146. ATROVENT [Suspect]
     Active Substance: IPRATROPIUM BROMIDE
     Dosage: UNK UNK, Q6H
     Route: 050
  147. ATROVENT [Suspect]
     Active Substance: IPRATROPIUM BROMIDE
     Dosage: UNK UNK, Q6H
     Route: 050
  148. ATROVENT [Suspect]
     Active Substance: IPRATROPIUM BROMIDE
     Dosage: UNK, QID
     Route: 055
  149. ATROVENT [Suspect]
     Active Substance: IPRATROPIUM BROMIDE
     Dosage: UNK
     Route: 048
  150. ATROVENT [Suspect]
     Active Substance: IPRATROPIUM BROMIDE
     Dosage: UNK
     Route: 048
  151. ATROVENT [Suspect]
     Active Substance: IPRATROPIUM BROMIDE
     Dosage: UNK
     Route: 055
  152. ATROVENT [Suspect]
     Active Substance: IPRATROPIUM BROMIDE
     Dosage: UNK
     Route: 055
  153. ATROVENT [Suspect]
     Active Substance: IPRATROPIUM BROMIDE
     Indication: Sleep disorder therapy
     Dosage: UNK
     Route: 065
  154. FLUTICASONE FUROATE [Suspect]
     Active Substance: FLUTICASONE FUROATE
     Indication: Nutritional supplementation
     Dosage: UNK
     Route: 048
  155. FLUTICASONE FUROATE [Suspect]
     Active Substance: FLUTICASONE FUROATE
     Indication: Product used for unknown indication
     Route: 065
  156. FLUTICASONE FUROATE [Suspect]
     Active Substance: FLUTICASONE FUROATE
     Indication: Blood phosphorus increased
  157. FLUTICASONE FUROATE [Suspect]
     Active Substance: FLUTICASONE FUROATE
     Indication: Intentional product misuse
  158. BETAMETHASONE [Suspect]
     Active Substance: BETAMETHASONE\BETAMETHASONE DIPROPIONATE
     Dosage: 1 DF
     Route: 061
  159. BETAMETHASONE [Suspect]
     Active Substance: BETAMETHASONE\BETAMETHASONE DIPROPIONATE
     Dosage: 1 DOSAGE FORM
     Route: 061
  160. BETAMETHASONE [Suspect]
     Active Substance: BETAMETHASONE\BETAMETHASONE DIPROPIONATE
     Dosage: 10 MG, QD
     Route: 061
  161. BETAMETHASONE [Suspect]
     Active Substance: BETAMETHASONE\BETAMETHASONE DIPROPIONATE
     Dosage: 10 MG
     Route: 061
  162. BETAMETHASONE [Suspect]
     Active Substance: BETAMETHASONE\BETAMETHASONE DIPROPIONATE
     Indication: Off label use
     Dosage: UNK, QD
     Route: 061
  163. BETAMETHASONE [Suspect]
     Active Substance: BETAMETHASONE\BETAMETHASONE DIPROPIONATE
     Dosage: UNK, QD
     Route: 061
  164. BETAMETHASONE [Suspect]
     Active Substance: BETAMETHASONE\BETAMETHASONE DIPROPIONATE
     Dosage: UNK
     Route: 061
  165. BETAMETHASONE [Suspect]
     Active Substance: BETAMETHASONE\BETAMETHASONE DIPROPIONATE
     Dosage: UNK
     Route: 061
  166. BETAMETHASONE [Suspect]
     Active Substance: BETAMETHASONE\BETAMETHASONE DIPROPIONATE
     Dosage: UNK
     Route: 061
  167. BETAMETHASONE [Suspect]
     Active Substance: BETAMETHASONE\BETAMETHASONE DIPROPIONATE
     Dosage: UNK
     Route: 061
  168. BETAMETHASONE [Suspect]
     Active Substance: BETAMETHASONE\BETAMETHASONE DIPROPIONATE
     Dosage: UNK
     Route: 061
  169. BETAMETHASONE [Suspect]
     Active Substance: BETAMETHASONE\BETAMETHASONE DIPROPIONATE
     Dosage: UNK
     Route: 061
  170. BETAMETHASONE [Suspect]
     Active Substance: BETAMETHASONE\BETAMETHASONE DIPROPIONATE
     Dosage: UNK
     Route: 061
  171. BETAMETHASONE [Suspect]
     Active Substance: BETAMETHASONE\BETAMETHASONE DIPROPIONATE
     Dosage: UNK
     Route: 065
  172. BETAMETHASONE [Suspect]
     Active Substance: BETAMETHASONE\BETAMETHASONE DIPROPIONATE
     Dosage: UNK
     Route: 065
  173. BETAMETHASONE [Suspect]
     Active Substance: BETAMETHASONE\BETAMETHASONE DIPROPIONATE
     Indication: Swelling
     Dosage: UNK UNK, PRN
     Route: 061
  174. BETAMETHASONE [Suspect]
     Active Substance: BETAMETHASONE\BETAMETHASONE DIPROPIONATE
     Dosage: UNK, PRN
     Route: 061
  175. BETAMETHASONE [Suspect]
     Active Substance: BETAMETHASONE\BETAMETHASONE DIPROPIONATE
     Indication: Product used for unknown indication
     Dosage: UNK, PRN
     Route: 065
  176. BETAMETHASONE [Suspect]
     Active Substance: BETAMETHASONE\BETAMETHASONE DIPROPIONATE
     Dosage: UNK, EVERY SECONDS
     Route: 061
  177. BISACODYL [Suspect]
     Active Substance: BISACODYL
     Indication: Dyspnoea
     Dosage: 10 MG, QD
     Route: 054
  178. BISACODYL [Suspect]
     Active Substance: BISACODYL
     Dosage: 10 MG, QD
     Route: 054
  179. BISACODYL [Suspect]
     Active Substance: BISACODYL
     Indication: Product used for unknown indication
     Dosage: 10 MG
     Route: 042
  180. BISACODYL [Suspect]
     Active Substance: BISACODYL
     Indication: Off label use
     Dosage: 10 MG, PRN
     Route: 042
  181. BISACODYL [Suspect]
     Active Substance: BISACODYL
     Indication: Constipation
     Dosage: 10 MG, PRN
     Route: 054
  182. BISACODYL [Suspect]
     Active Substance: BISACODYL
     Indication: Ventricular fibrillation
     Dosage: 10 MG, PRN
     Route: 054
  183. BISACODYL [Suspect]
     Active Substance: BISACODYL
     Indication: Drug therapy
     Dosage: 10 MG, PRN
     Route: 065
  184. BISACODYL [Suspect]
     Active Substance: BISACODYL
     Dosage: UNK
     Route: 065
  185. BISACODYL [Suspect]
     Active Substance: BISACODYL
     Dosage: UNK
     Route: 065
  186. BEROTEC [Suspect]
     Active Substance: FENOTEROL HYDROBROMIDE
     Indication: Dyspnoea
     Dosage: 1 DF, TID
     Route: 065
  187. BEROTEC [Suspect]
     Active Substance: FENOTEROL HYDROBROMIDE
     Indication: Product used for unknown indication
     Dosage: UNK
     Route: 065
  188. BETA CAROTENE [Suspect]
     Active Substance: BETA CAROTENE
     Indication: Nutritional supplementation
     Dosage: 12.5 G
     Route: 042
  189. BETA CAROTENE [Suspect]
     Active Substance: BETA CAROTENE
     Indication: Product used for unknown indication
     Dosage: 12.5 G
     Route: 065
  190. BETA CAROTENE [Suspect]
     Active Substance: BETA CAROTENE
     Dosage: 12.5 IU
     Route: 042
  191. BETA CAROTENE [Suspect]
     Active Substance: BETA CAROTENE
     Dosage: UNK
     Route: 065
  192. BETA CAROTENE [Suspect]
     Active Substance: BETA CAROTENE
     Indication: Nutritional supplementation
     Dosage: 12.5 G, PRN
     Route: 042
  193. BETA CAROTENE [Suspect]
     Active Substance: BETA CAROTENE
     Dosage: 12.5 G, PRN
     Route: 042
  194. BETA CAROTENE [Suspect]
     Active Substance: BETA CAROTENE
     Dosage: UNK
     Route: 065
  195. BETAMETHASONE DIPROPIONATE [Suspect]
     Active Substance: BETAMETHASONE DIPROPIONATE
     Indication: Swelling
     Dosage: UNK, QD
     Route: 048
  196. BIOTIN [Suspect]
     Active Substance: BIOTIN
     Indication: Product used for unknown indication
     Dosage: 5 MG, QD
     Route: 042
  197. BIOTIN [Suspect]
     Active Substance: BIOTIN
     Dosage: 5 MG, QD
     Route: 042
  198. BIOTIN [Suspect]
     Active Substance: BIOTIN
     Dosage: UNK
     Route: 042
  199. BIOTIN [Suspect]
     Active Substance: BIOTIN
     Indication: Vitamin supplementation
     Dosage: UNK
     Route: 065
  200. BIOTIN [Suspect]
     Active Substance: BIOTIN
     Dosage: UNK
     Route: 065
  201. BISMUTH [Suspect]
     Active Substance: BISMUTH
     Indication: Constipation
     Dosage: 133 ML, PRN
     Route: 054
  202. BISMUTH [Suspect]
     Active Substance: BISMUTH
     Dosage: UNK
     Route: 065
  203. BISMUTH SUBGALLATE [Suspect]
     Active Substance: BISMUTH SUBGALLATE
     Indication: Constipation
     Dosage: 133 ML
     Route: 054
  204. BISMUTH SUBGALLATE [Suspect]
     Active Substance: BISMUTH SUBGALLATE
     Dosage: 133 ML, PRN
     Route: 054
  205. BISMUTH SUBGALLATE\BUFEXAMAC\LIDOCAINE HYDROCHLORIDE\TITANIUM DIOXIDE [Suspect]
     Active Substance: BISMUTH SUBGALLATE\BUFEXAMAC\LIDOCAINE HYDROCHLORIDE\TITANIUM DIOXIDE
     Indication: Constipation
     Dosage: 133 ML
     Route: 054
  206. BISMUTH SUBGALLATE\BUFEXAMAC\LIDOCAINE HYDROCHLORIDE\TITANIUM DIOXIDE [Suspect]
     Active Substance: BISMUTH SUBGALLATE\BUFEXAMAC\LIDOCAINE HYDROCHLORIDE\TITANIUM DIOXIDE
     Dosage: 133 ML
     Route: 054
  207. BISMUTH SUBNITRATE [Suspect]
     Active Substance: BISMUTH SUBNITRATE
     Indication: Constipation
     Dosage: 133 ML, PRN
     Route: 065
  208. BISMUTH SUBNITRATE [Suspect]
     Active Substance: BISMUTH SUBNITRATE
     Dosage: 133 ML, PRN
     Route: 065
  209. BISMUTH SUBSALICYLATE [Suspect]
     Active Substance: BISMUTH SUBSALICYLATE
     Indication: Product used for unknown indication
     Dosage: 133 ML
     Route: 065
  210. BISMUTH SUBSALICYLATE [Suspect]
     Active Substance: BISMUTH SUBSALICYLATE
     Indication: Constipation
     Dosage: UNK
     Route: 065
  211. BREO ELLIPTA [Suspect]
     Active Substance: FLUTICASONE FUROATE\VILANTEROL TRIFENATATE
     Dosage: 1 IU, QD
     Route: 065
  212. BREO ELLIPTA [Suspect]
     Active Substance: FLUTICASONE FUROATE\VILANTEROL TRIFENATATE
     Indication: Nutritional supplementation
     Dosage: UNK, QD
     Route: 055
  213. UNSPECIFIED INGREDIENT [Suspect]
     Active Substance: UNSPECIFIED INGREDIENT
     Indication: Dyspnoea
     Dosage: 1 IU
     Route: 048
  214. UNSPECIFIED INGREDIENT [Suspect]
     Active Substance: UNSPECIFIED INGREDIENT
     Indication: Product used for unknown indication
     Dosage: 1 IU/KG
     Route: 065
  215. BUFEXAMAC [Suspect]
     Active Substance: BUFEXAMAC
     Indication: Constipation
     Route: 065
  216. CALCIUM [Suspect]
     Active Substance: CALCIUM
     Indication: Product used for unknown indication
     Dosage: UNK
     Route: 065
  217. CEFTRIAXONE SODIUM [Suspect]
     Active Substance: CEFTRIAXONE SODIUM
     Indication: Bacterial infection
     Dosage: 2 G, QD
     Route: 042
  218. CEFTRIAXONE SODIUM [Suspect]
     Active Substance: CEFTRIAXONE SODIUM
     Dosage: 2 G, QD
     Route: 042
  219. CEFTRIAXONE SODIUM [Suspect]
     Active Substance: CEFTRIAXONE SODIUM
     Dosage: 2 G, QD
     Route: 042
  220. CEFTRIAXONE SODIUM [Suspect]
     Active Substance: CEFTRIAXONE SODIUM
     Dosage: 2 G, QD
     Route: 042
  221. CEFTRIAXONE SODIUM [Suspect]
     Active Substance: CEFTRIAXONE SODIUM
     Dosage: 2 G, QD
     Route: 042
  222. CEFTRIAXONE SODIUM [Suspect]
     Active Substance: CEFTRIAXONE SODIUM
     Dosage: 2 G
     Route: 042
  223. CEFTRIAXONE SODIUM [Suspect]
     Active Substance: CEFTRIAXONE SODIUM
     Dosage: 2 G
     Route: 065
  224. CEFTRIAXONE SODIUM [Suspect]
     Active Substance: CEFTRIAXONE SODIUM
     Indication: Off label use
     Dosage: 2 MG
     Route: 042
  225. CEFTRIAXONE SODIUM [Suspect]
     Active Substance: CEFTRIAXONE SODIUM
     Dosage: UNK
     Route: 065
  226. CEFTRIAXONE SODIUM [Suspect]
     Active Substance: CEFTRIAXONE SODIUM
     Dosage: UNK
     Route: 065
  227. CALCITRIOL [Suspect]
     Active Substance: CALCITRIOL
     Dosage: 0.25 MG, QD
     Route: 048
  228. CALCITRIOL [Suspect]
     Active Substance: CALCITRIOL
     Dosage: 0.25 MG
     Route: 048
  229. CALCITRIOL [Suspect]
     Active Substance: CALCITRIOL
     Indication: Product used for unknown indication
     Dosage: 0.25 UG, QD
     Route: 065
  230. CALCITRIOL [Suspect]
     Active Substance: CALCITRIOL
     Dosage: 0.25 UG, QD
     Route: 065
  231. CALCITRIOL [Suspect]
     Active Substance: CALCITRIOL
     Dosage: 0.25 UG, QD
     Route: 065
  232. CALCITRIOL [Suspect]
     Active Substance: CALCITRIOL
     Dosage: 0.25 UG, QD
     Route: 065
  233. CALCITRIOL [Suspect]
     Active Substance: CALCITRIOL
     Dosage: 0.25 UG, QD
     Route: 065
  234. CALCITRIOL [Suspect]
     Active Substance: CALCITRIOL
     Dosage: 0.25 UG, QD
     Route: 065
  235. CALCITRIOL [Suspect]
     Active Substance: CALCITRIOL
     Indication: Vitamin supplementation
     Dosage: 0.25 UG, PRN
     Route: 048
  236. CALCITRIOL [Suspect]
     Active Substance: CALCITRIOL
     Dosage: 500 MG, Q8H
     Route: 048
  237. CALCITRIOL [Suspect]
     Active Substance: CALCITRIOL
     Dosage: 500 MG, Q8H
     Route: 048
  238. CALCITRIOL [Suspect]
     Active Substance: CALCITRIOL
     Dosage: UNK, QD
     Route: 065
  239. CALCITRIOL [Suspect]
     Active Substance: CALCITRIOL
     Dosage: UNK, QD
     Route: 065
  240. CALCITRIOL [Suspect]
     Active Substance: CALCITRIOL
     Dosage: UNK
     Route: 065
  241. CALCITRIOL [Suspect]
     Active Substance: CALCITRIOL
     Dosage: UNK
     Route: 065
  242. CALCIUM\VITAMIN D [Suspect]
     Active Substance: CALCIUM\VITAMIN D
     Indication: Product used for unknown indication
     Route: 065
  243. CALCIUM CARBONATE [Suspect]
     Active Substance: CALCIUM CARBONATE
     Indication: Product used for unknown indication
     Dosage: UNK
     Route: 065
  244. CALCIUM CARBONATE [Suspect]
     Active Substance: CALCIUM CARBONATE
     Dosage: UNK
     Route: 065
  245. CALCIUM GLUCONATE [Suspect]
     Active Substance: CALCIUM GLUCONATE
     Indication: Product used for unknown indication
     Dosage: UNK
     Route: 065
  246. CALCIUM\CHOLECALCIFEROL [Suspect]
     Active Substance: CALCIUM\CHOLECALCIFEROL
     Indication: Product used for unknown indication
     Dosage: UNK
     Route: 065
  247. HERBALS [Suspect]
     Active Substance: HERBALS
     Indication: Nutritional supplementation
     Dosage: 12.5 G
     Route: 065
  248. HERBALS [Suspect]
     Active Substance: HERBALS
     Dosage: UNK
     Route: 042
  249. CAPRYLIC ACID [Suspect]
     Active Substance: CAPRYLIC ACID
     Indication: Constipation
     Route: 065
  250. BETA CAROTENE [Suspect]
     Active Substance: BETA CAROTENE
     Indication: Product used for unknown indication
     Route: 065
  251. SAFFLOWER [Suspect]
     Active Substance: SAFFLOWER
     Indication: Constipation
     Dosage: 17 G, QD
     Route: 065
  252. CHLORAMPHENICOL [Suspect]
     Active Substance: CHLORAMPHENICOL
     Indication: Thrombosis
     Dosage: 2 ML, QD
     Route: 065
  253. CHLORAMPHENICOL [Suspect]
     Active Substance: CHLORAMPHENICOL
     Dosage: 2 UNK, QD
     Route: 065
  254. CHLORAMPHENICOL [Suspect]
     Active Substance: CHLORAMPHENICOL
     Indication: Product used for unknown indication
     Dosage: UNK
     Route: 065
  255. CHLORAMPHENICOL PALMITATE [Suspect]
     Active Substance: CHLORAMPHENICOL PALMITATE
     Indication: Bacterial infection
     Dosage: UNK
     Route: 065
  256. CITRIC ACID [Suspect]
     Active Substance: CITRIC ACID MONOHYDRATE
     Indication: Nutritional supplementation
     Route: 065
  257. COUMADIN [Suspect]
     Active Substance: WARFARIN SODIUM
     Dosage: 2 G, QD
     Route: 065
  258. COUMADIN [Suspect]
     Active Substance: WARFARIN SODIUM
     Indication: Thrombosis
     Dosage: 2 MG
     Route: 048
  259. COUMADIN [Suspect]
     Active Substance: WARFARIN SODIUM
     Dosage: 2 ML, QD
     Route: 065
  260. .ALPHA.-TOCOPHEROL, D- [Suspect]
     Active Substance: .ALPHA.-TOCOPHEROL, D-
     Indication: Nutritional supplementation
     Dosage: 12.5 G
     Route: 042
  261. DOBUTAMINE [Suspect]
     Active Substance: DOBUTAMINE HYDROCHLORIDE
     Indication: Product used for unknown indication
     Dosage: UNK
     Route: 042
  262. DOBUTAMINE [Suspect]
     Active Substance: DOBUTAMINE HYDROCHLORIDE
     Dosage: UNK
     Route: 042
  263. DOBUTAMINE [Suspect]
     Active Substance: DOBUTAMINE HYDROCHLORIDE
     Dosage: UNK
     Route: 042
  264. DOBUTAMINE [Suspect]
     Active Substance: DOBUTAMINE HYDROCHLORIDE
     Dosage: UNK
     Route: 042
  265. DOBUTAMINE [Suspect]
     Active Substance: DOBUTAMINE HYDROCHLORIDE
     Indication: Off label use
     Dosage: UNK
     Route: 065
  266. DOBUTAMINE [Suspect]
     Active Substance: DOBUTAMINE HYDROCHLORIDE
     Dosage: UNK
     Route: 065
  267. DOBUTAMINE [Suspect]
     Active Substance: DOBUTAMINE HYDROCHLORIDE
     Indication: Cardiogenic shock
     Dosage: UNK (DOSAGE FORM: LIQUID INTRAMUSCULAR)
     Route: 042
  268. DOCUSATE SODIUM [Suspect]
     Active Substance: DOCUSATE SODIUM
     Indication: Product used for unknown indication
     Dosage: UNK
     Route: 065
  269. DALTEPARIN SODIUM [Suspect]
     Active Substance: DALTEPARIN SODIUM
     Dosage: 12.5 MG
     Route: 042
  270. DALTEPARIN SODIUM [Suspect]
     Active Substance: DALTEPARIN SODIUM
     Indication: Product used for unknown indication
     Dosage: 2.5 ML
     Route: 065
  271. DALTEPARIN SODIUM [Suspect]
     Active Substance: DALTEPARIN SODIUM
     Dosage: 2.5 ML
     Route: 065
  272. DALTEPARIN SODIUM [Suspect]
     Active Substance: DALTEPARIN SODIUM
     Dosage: 2.5 ML
     Route: 065
  273. DALTEPARIN SODIUM [Suspect]
     Active Substance: DALTEPARIN SODIUM
     Dosage: UNK
     Route: 048
  274. DALTEPARIN SODIUM [Suspect]
     Active Substance: DALTEPARIN SODIUM
     Dosage: UNK
     Route: 048
  275. DALTEPARIN SODIUM [Suspect]
     Active Substance: DALTEPARIN SODIUM
     Indication: Pulmonary embolism
     Dosage: UNK
     Route: 065
  276. DALTEPARIN SODIUM [Suspect]
     Active Substance: DALTEPARIN SODIUM
     Dosage: UNK
     Route: 065
  277. DALTEPARIN SODIUM [Suspect]
     Active Substance: DALTEPARIN SODIUM
     Dosage: UNK
     Route: 065
  278. DALTEPARIN SODIUM [Suspect]
     Active Substance: DALTEPARIN SODIUM
     Dosage: UNK
     Route: 065
  279. DALTEPARIN SODIUM [Suspect]
     Active Substance: DALTEPARIN SODIUM
     Dosage: UNK
     Route: 065
  280. DALTEPARIN SODIUM [Suspect]
     Active Substance: DALTEPARIN SODIUM
     Dosage: UNK
     Route: 065
  281. DALTEPARIN SODIUM [Suspect]
     Active Substance: DALTEPARIN SODIUM
     Dosage: UNK
     Route: 065
  282. DALTEPARIN SODIUM [Suspect]
     Active Substance: DALTEPARIN SODIUM
     Dosage: UNK
     Route: 065
  283. DALTEPARIN SODIUM [Suspect]
     Active Substance: DALTEPARIN SODIUM
     Dosage: UNK
     Route: 065
  284. DARBEPOETIN ALFA [Suspect]
     Active Substance: DARBEPOETIN ALFA
     Indication: Anaemia
     Dosage: 0.71 UG, QOD
     Route: 065
  285. DARBEPOETIN ALFA [Suspect]
     Active Substance: DARBEPOETIN ALFA
     Dosage: 10 MG, QOD
     Route: 065
  286. DEXILANT [Suspect]
     Active Substance: DEXLANSOPRAZOLE
     Indication: Cardiogenic shock
     Dosage: 60 MG, QD
     Route: 048
  287. DEXILANT [Suspect]
     Active Substance: DEXLANSOPRAZOLE
     Dosage: 60 MG, QD
     Route: 048
  288. DEXILANT [Suspect]
     Active Substance: DEXLANSOPRAZOLE
     Dosage: 60 MG, QD
     Route: 048
  289. DEXLANSOPRAZOLE [Suspect]
     Active Substance: DEXLANSOPRAZOLE
     Dosage: 6 DF, Q6H
     Route: 048
  290. DEXLANSOPRAZOLE [Suspect]
     Active Substance: DEXLANSOPRAZOLE
     Indication: Product used for unknown indication
     Dosage: 60 MG, QD
     Route: 048
  291. DEXPANTHENOL [Suspect]
     Active Substance: DEXPANTHENOL
     Indication: Constipation
     Dosage: 17 G, QD
     Route: 065
  292. DEXTROSE [Suspect]
     Active Substance: DEXTROSE\DEXTROSE MONOHYDRATE
     Dosage: 12.5 G, PRN
     Route: 042
  293. DEXTROSE [Suspect]
     Active Substance: DEXTROSE\DEXTROSE MONOHYDRATE
     Indication: Nutritional supplementation
     Dosage: 12.5 G, PRN
     Route: 065
  294. DEXTROSE [Suspect]
     Active Substance: DEXTROSE\DEXTROSE MONOHYDRATE
     Dosage: 12.5 G,
     Route: 042
  295. DEXTROSE [Suspect]
     Active Substance: DEXTROSE\DEXTROSE MONOHYDRATE
     Dosage: 12.5 G,
     Route: 042
  296. DEXTROSE [Suspect]
     Active Substance: DEXTROSE\DEXTROSE MONOHYDRATE
     Dosage: 12.5 G,
     Route: 042
  297. DIPROSONE [Suspect]
     Active Substance: BETAMETHASONE DIPROPIONATE
     Indication: Swelling
     Route: 065
  298. DIPYRONE [Suspect]
     Active Substance: DIPYRONE
     Dosage: 5 MG, QD
     Route: 042
  299. DIPYRONE [Suspect]
     Active Substance: DIPYRONE
     Dosage: 5 MG, QD (CAPSULE)
     Route: 042
  300. DIPYRONE [Suspect]
     Active Substance: DIPYRONE
     Indication: Off label use
     Dosage: 5 MG (SOLUTION INTRAMUSCULAR)
     Route: 042
  301. DIPYRONE [Suspect]
     Active Substance: DIPYRONE
     Indication: Intentional product misuse
     Dosage: UNK
     Route: 042
  302. DIPYRONE [Suspect]
     Active Substance: DIPYRONE
     Dosage: UNK
     Route: 042
  303. DIPYRONE [Suspect]
     Active Substance: DIPYRONE
     Dosage: UNK
     Route: 042
  304. DIPYRONE [Suspect]
     Active Substance: DIPYRONE
     Indication: Vitamin supplementation
     Dosage: UNK (DOSAGE FORM: LIQUID INTRAMUSCULAR)
     Route: 065
  305. DISTIGMINE BROMIDE [Suspect]
     Active Substance: DISTIGMINE BROMIDE
     Dosage: 1 IU, QD
     Route: 048
  306. DISTIGMINE BROMIDE [Suspect]
     Active Substance: DISTIGMINE BROMIDE
     Indication: Off label use
     Dosage: 1 IU, QD
     Route: 048
  307. DISTIGMINE BROMIDE [Suspect]
     Active Substance: DISTIGMINE BROMIDE
     Dosage: 1 IU, QD
     Route: 048
  308. DISTIGMINE BROMIDE [Suspect]
     Active Substance: DISTIGMINE BROMIDE
     Indication: Dyspnoea
     Dosage: UNK
     Route: 065
  309. DISTIGMINE BROMIDE [Suspect]
     Active Substance: DISTIGMINE BROMIDE
     Indication: Product used for unknown indication
     Dosage: UNK
     Route: 065
  310. DISTIGMINE BROMIDE [Suspect]
     Active Substance: DISTIGMINE BROMIDE
     Dosage: UNK
     Route: 065
  311. DULCOLAX (BISACODYL) [Suspect]
     Active Substance: BISACODYL
     Indication: Constipation
     Dosage: 10 MG, QD
     Route: 054
  312. DULCOLAX (BISACODYL) [Suspect]
     Active Substance: BISACODYL
     Indication: Ventricular fibrillation
     Dosage: 10 MG, QD
     Route: 054
  313. DULCOLAX (BISACODYL) [Suspect]
     Active Substance: BISACODYL
     Dosage: 10 MG, QD
     Route: 054
  314. DULCOLAX (BISACODYL) [Suspect]
     Active Substance: BISACODYL
     Dosage: 10 MG, QD
     Route: 054
  315. DULCOLAX (BISACODYL) [Suspect]
     Active Substance: BISACODYL
     Dosage: 10 MG, QD
     Route: 054
  316. DULCOLAX (BISACODYL) [Suspect]
     Active Substance: BISACODYL
     Dosage: 10 MG, QD
     Route: 054
  317. DULCOLAX (BISACODYL) [Suspect]
     Active Substance: BISACODYL
     Dosage: 10 MG, QD
     Route: 054
  318. DULCOLAX (BISACODYL) [Suspect]
     Active Substance: BISACODYL
     Dosage: 10 MG, QD
     Route: 065
  319. DULCOLAX (BISACODYL) [Suspect]
     Active Substance: BISACODYL
     Indication: Drug therapy
     Dosage: UNK
     Route: 054
  320. DULCOLAX (BISACODYL) [Suspect]
     Active Substance: BISACODYL
     Indication: Dyspnoea
     Dosage: UNK
     Route: 054
  321. DULCOLAX (BISACODYL) [Suspect]
     Active Substance: BISACODYL
     Indication: Product used for unknown indication
     Dosage: UNK
     Route: 054
  322. DULCOLAX (BISACODYL) [Suspect]
     Active Substance: BISACODYL
     Indication: Off label use
     Dosage: UNK
     Route: 065
  323. FENOTEROL [Suspect]
     Active Substance: FENOTEROL
     Indication: Dyspnoea
     Dosage: 1 DOSAGE FORM, QD
     Route: 065
  324. FENOTEROL [Suspect]
     Active Substance: FENOTEROL
     Dosage: 1 DOSAGE FORM, QD
     Route: 065
  325. FENOTEROL [Suspect]
     Active Substance: FENOTEROL
     Dosage: 1 DOSAGE FORM, Q8H
     Route: 050
  326. FENOTEROL [Suspect]
     Active Substance: FENOTEROL
     Dosage: 1 DOSAGE FORM, TID
     Route: 050
  327. FENOTEROL [Suspect]
     Active Substance: FENOTEROL
     Dosage: 4 IU, QD
     Route: 065
  328. FENOTEROL [Suspect]
     Active Substance: FENOTEROL
     Dosage: 4 IU, QD
     Route: 065
  329. FENOTEROL [Suspect]
     Active Substance: FENOTEROL
     Dosage: UNK UNK, QD
     Route: 065
  330. FENOTEROL [Suspect]
     Active Substance: FENOTEROL
     Dosage: UNK, QD
     Route: 065
  331. FENOTEROL [Suspect]
     Active Substance: FENOTEROL
     Dosage: UNK UNK, Q8H
     Route: 065
  332. FENOTEROL\IPRATROPIUM [Suspect]
     Active Substance: FENOTEROL\IPRATROPIUM
     Dosage: 1 DF, QD
     Route: 065
  333. FENOTEROL\IPRATROPIUM [Suspect]
     Active Substance: FENOTEROL\IPRATROPIUM
     Dosage: 1 DF, TID
     Route: 065
  334. FENOTEROL\IPRATROPIUM [Suspect]
     Active Substance: FENOTEROL\IPRATROPIUM
     Indication: Dyspnoea
     Dosage: 4 IU
     Route: 065
  335. FENOTEROL\IPRATROPIUM [Suspect]
     Active Substance: FENOTEROL\IPRATROPIUM
     Dosage: UNK, QD
     Route: 065
  336. FENOTEROL\IPRATROPIUM [Suspect]
     Active Substance: FENOTEROL\IPRATROPIUM
     Dosage: UNK, TID
     Route: 065
  337. FERROUS SUCCINATE [Suspect]
     Active Substance: FERROUS SUCCINATE
     Indication: Iron deficiency
     Dosage: UNK, Q6H
     Route: 042
  338. FIASP [Suspect]
     Active Substance: INSULIN ASPART
     Indication: Diabetes mellitus
     Route: 065
  339. PSYLLIUM HUSK [Suspect]
     Active Substance: PSYLLIUM HUSK
     Indication: Product used for unknown indication
     Dosage: 5 MG, QD
     Route: 042
  340. FLUTICASONE [Suspect]
     Active Substance: FLUTICASONE
     Indication: Product used for unknown indication
     Dosage: 1 IU, QD
     Route: 048
  341. FLUTICASONE [Suspect]
     Active Substance: FLUTICASONE
     Indication: Off label use
     Dosage: UNK
     Route: 048
  342. FLUTICASONE [Suspect]
     Active Substance: FLUTICASONE
     Indication: Nutritional supplementation
     Dosage: UNK
     Route: 065
  343. FLUTICASONE [Suspect]
     Active Substance: FLUTICASONE
     Indication: Dyspnoea
  344. FLUTICASONE FUROATE [Suspect]
     Active Substance: FLUTICASONE FUROATE
     Indication: Dyspnoea
     Dosage: 1 IU
     Route: 048
  345. FLUTICASONE FUROATE [Suspect]
     Active Substance: FLUTICASONE FUROATE
     Indication: Nutritional supplementation
     Dosage: UNK
     Route: 065
  346. FLUTICASONE FUROATE [Suspect]
     Active Substance: FLUTICASONE FUROATE
     Indication: Product used for unknown indication
     Dosage: UNK
     Route: 065
  347. FLUTICASONE FUROATE\VILANTEROL TRIFENATATE [Suspect]
     Active Substance: FLUTICASONE FUROATE\VILANTEROL TRIFENATATE
     Indication: Product used for unknown indication
     Dosage: 1 IU, QD
     Route: 048
  348. FLUTICASONE FUROATE\VILANTEROL TRIFENATATE [Suspect]
     Active Substance: FLUTICASONE FUROATE\VILANTEROL TRIFENATATE
     Indication: Off label use
     Dosage: UNK
     Route: 065
  349. FLUTICASONE FUROATE\VILANTEROL TRIFENATATE [Suspect]
     Active Substance: FLUTICASONE FUROATE\VILANTEROL TRIFENATATE
     Indication: Dyspnoea
  350. FLUTICASONE FUROATE\VILANTEROL TRIFENATATE [Suspect]
     Active Substance: FLUTICASONE FUROATE\VILANTEROL TRIFENATATE
     Indication: Intentional product misuse
  351. FLUTICASONE FUROATE\VILANTEROL TRIFENATATE [Suspect]
     Active Substance: FLUTICASONE FUROATE\VILANTEROL TRIFENATATE
     Indication: Nutritional supplementation
  352. FLUTICASONE FUROATE\UMECLIDINIUM BROMIDE\VILANTEROL TRIFENATATE [Suspect]
     Active Substance: FLUTICASONE FUROATE\UMECLIDINIUM BROMIDE\VILANTEROL TRIFENATATE
     Indication: Off label use
     Dosage: 1 IU, QD
     Route: 065
  353. FLUTICASONE FUROATE\UMECLIDINIUM BROMIDE\VILANTEROL TRIFENATATE [Suspect]
     Active Substance: FLUTICASONE FUROATE\UMECLIDINIUM BROMIDE\VILANTEROL TRIFENATATE
     Indication: Intentional product misuse
     Dosage: UNK
     Route: 065
  354. FLUTICASONE FUROATE\UMECLIDINIUM BROMIDE\VILANTEROL TRIFENATATE [Suspect]
     Active Substance: FLUTICASONE FUROATE\UMECLIDINIUM BROMIDE\VILANTEROL TRIFENATATE
     Indication: Nutritional supplementation
     Dosage: UNK
     Route: 065
  355. FLUTICASONE FUROATE\UMECLIDINIUM BROMIDE\VILANTEROL TRIFENATATE [Suspect]
     Active Substance: FLUTICASONE FUROATE\UMECLIDINIUM BROMIDE\VILANTEROL TRIFENATATE
     Indication: Product used for unknown indication
     Route: 055
  356. FLUTICASONE FUROATE\UMECLIDINIUM BROMIDE\VILANTEROL TRIFENATATE [Suspect]
     Active Substance: FLUTICASONE FUROATE\UMECLIDINIUM BROMIDE\VILANTEROL TRIFENATATE
     Indication: Dyspnoea
  357. FLUTICASONE PROPIONATE [Suspect]
     Active Substance: FLUTICASONE PROPIONATE
     Indication: Nutritional supplementation
     Dosage: UNK
     Route: 065
  358. FLUTICASONE PROPIONATE AND SALMETEROL [Suspect]
     Active Substance: FLUTICASONE PROPIONATE\SALMETEROL XINAFOATE
     Indication: Dyspnoea
     Dosage: 1 IU
     Route: 065
  359. FLUTICASONE PROPIONATE AND SALMETEROL [Suspect]
     Active Substance: FLUTICASONE PROPIONATE\SALMETEROL XINAFOATE
     Indication: Nutritional supplementation
  360. FOSRENOL [Suspect]
     Active Substance: LANTHANUM CARBONATE
     Indication: Blood phosphorus increased
     Dosage: 500 MG, PRN
     Route: 048
  361. FOSRENOL [Suspect]
     Active Substance: LANTHANUM CARBONATE
     Indication: Hyperphosphataemia
     Dosage: 500 MG, PRN
     Route: 048
  362. FOSRENOL [Suspect]
     Active Substance: LANTHANUM CARBONATE
     Indication: Off label use
     Dosage: 500 MG, PRN
     Route: 048
  363. FOSRENOL [Suspect]
     Active Substance: LANTHANUM CARBONATE
     Dosage: 500 MG, PRN
     Route: 048
  364. FOSRENOL [Suspect]
     Active Substance: LANTHANUM CARBONATE
     Dosage: 500 MG, PRN
     Route: 048
  365. FOSRENOL [Suspect]
     Active Substance: LANTHANUM CARBONATE
     Dosage: 500 MG, PRN
     Route: 048
  366. FOSRENOL [Suspect]
     Active Substance: LANTHANUM CARBONATE
     Dosage: 500 MG, PRN
     Route: 048
  367. FRAGMIN [Suspect]
     Active Substance: DALTEPARIN SODIUM
     Dosage: 2.5 ML
     Route: 065
  368. FRAGMIN [Suspect]
     Active Substance: DALTEPARIN SODIUM
     Dosage: 2.5 ML
     Route: 065
  369. FRAGMIN [Suspect]
     Active Substance: DALTEPARIN SODIUM
     Dosage: 2.5 ML
     Route: 065
  370. FRAGMIN [Suspect]
     Active Substance: DALTEPARIN SODIUM
     Dosage: 2.5 ML
     Route: 065
  371. FRAGMIN [Suspect]
     Active Substance: DALTEPARIN SODIUM
     Dosage: 2.5 ML
     Route: 065
  372. FRAGMIN [Suspect]
     Active Substance: DALTEPARIN SODIUM
     Indication: Thrombosis
     Dosage: 2.5 ML, PRN
     Route: 065
  373. FRAGMIN [Suspect]
     Active Substance: DALTEPARIN SODIUM
     Dosage: 2.5 ML
     Route: 065
  374. FRAGMIN [Suspect]
     Active Substance: DALTEPARIN SODIUM
     Dosage: UNK
     Route: 042
  375. FRAGMIN [Suspect]
     Active Substance: DALTEPARIN SODIUM
     Indication: Pulmonary embolism
     Dosage: UNK
     Route: 065
  376. FRAGMIN [Suspect]
     Active Substance: DALTEPARIN SODIUM
     Indication: Product used for unknown indication
     Dosage: UNK (INTRAVENOUS USE)
     Route: 048
  377. FURAZOLIDONE [Suspect]
     Active Substance: FURAZOLIDONE
     Indication: Product used for unknown indication
     Dosage: 12.5 MG
     Route: 042
  378. FURAZOLIDONE [Suspect]
     Active Substance: FURAZOLIDONE
     Dosage: 12.5 MG
     Route: 042
  379. FURAZOLIDONE [Suspect]
     Active Substance: FURAZOLIDONE
     Dosage: UNK
     Route: 065
  380. GABAPENTIN [Suspect]
     Active Substance: GABAPENTIN
     Dosage: 10 MG, QD
     Route: 048
  381. GABAPENTIN [Suspect]
     Active Substance: GABAPENTIN
     Indication: Intentional product misuse
     Dosage: 100 MG, QD
     Route: 048
  382. GABAPENTIN [Suspect]
     Active Substance: GABAPENTIN
     Indication: Off label use
     Dosage: 100 MG, QD
     Route: 048
  383. GABAPENTIN [Suspect]
     Active Substance: GABAPENTIN
     Dosage: 100 MG, QD
     Route: 048
  384. GABAPENTIN [Suspect]
     Active Substance: GABAPENTIN
     Indication: Product used for unknown indication
     Dosage: 100 MG, QD
     Route: 065
  385. GABAPENTIN [Suspect]
     Active Substance: GABAPENTIN
     Indication: Neuralgia
     Dosage: 100 MG
     Route: 048
  386. GABAPENTIN [Suspect]
     Active Substance: GABAPENTIN
     Dosage: 1000 MG, QD
     Route: 048
  387. GABAPENTIN [Suspect]
     Active Substance: GABAPENTIN
     Indication: Bacterial infection
     Dosage: UNK
     Route: 048
  388. GABAPENTIN [Suspect]
     Active Substance: GABAPENTIN
     Dosage: UNK
     Route: 048
  389. GABAPENTIN [Suspect]
     Active Substance: GABAPENTIN
     Dosage: UNK
     Route: 048
  390. DEXTROSE [Suspect]
     Active Substance: DEXTROSE\DEXTROSE MONOHYDRATE
     Dosage: 1 DOSAGE FORM, QD
     Route: 042
  391. DEXTROSE [Suspect]
     Active Substance: DEXTROSE\DEXTROSE MONOHYDRATE
     Indication: Intentional product misuse
     Dosage: 1.25 G, QD
     Route: 042
  392. DEXTROSE [Suspect]
     Active Substance: DEXTROSE\DEXTROSE MONOHYDRATE
     Dosage: 1.25 G, QD
     Route: 065
  393. DEXTROSE [Suspect]
     Active Substance: DEXTROSE\DEXTROSE MONOHYDRATE
     Dosage: 1.25 G
     Route: 042
  394. DEXTROSE [Suspect]
     Active Substance: DEXTROSE\DEXTROSE MONOHYDRATE
     Dosage: 1.25 G
     Route: 042
  395. DEXTROSE [Suspect]
     Active Substance: DEXTROSE\DEXTROSE MONOHYDRATE
     Dosage: 1.25 G
     Route: 065
  396. DEXTROSE [Suspect]
     Active Substance: DEXTROSE\DEXTROSE MONOHYDRATE
     Dosage: 1.25 G, PRN
     Route: 042
  397. DEXTROSE [Suspect]
     Active Substance: DEXTROSE\DEXTROSE MONOHYDRATE
     Dosage: 1.25 G, PRN
     Route: 065
  398. DEXTROSE [Suspect]
     Active Substance: DEXTROSE\DEXTROSE MONOHYDRATE
     Dosage: 12 G, QD
     Route: 065
  399. DEXTROSE [Suspect]
     Active Substance: DEXTROSE\DEXTROSE MONOHYDRATE
     Dosage: 12.5 G, QD
     Route: 042
  400. DEXTROSE [Suspect]
     Active Substance: DEXTROSE\DEXTROSE MONOHYDRATE
     Dosage: 12.5 G, QD
     Route: 042
  401. DEXTROSE [Suspect]
     Active Substance: DEXTROSE\DEXTROSE MONOHYDRATE
     Dosage: 12.5 G
     Route: 042
  402. DEXTROSE [Suspect]
     Active Substance: DEXTROSE\DEXTROSE MONOHYDRATE
     Dosage: 12.5 G
     Route: 065
  403. DEXTROSE [Suspect]
     Active Substance: DEXTROSE\DEXTROSE MONOHYDRATE
     Dosage: 12.5 G
     Route: 065
  404. DEXTROSE [Suspect]
     Active Substance: DEXTROSE\DEXTROSE MONOHYDRATE
     Dosage: 12.5 G
     Route: 065
  405. DEXTROSE [Suspect]
     Active Substance: DEXTROSE\DEXTROSE MONOHYDRATE
     Dosage: 12.5 G
     Route: 065
  406. DEXTROSE [Suspect]
     Active Substance: DEXTROSE\DEXTROSE MONOHYDRATE
     Indication: Anticoagulant therapy
     Dosage: 12.5 MG, QD
     Route: 042
  407. DEXTROSE [Suspect]
     Active Substance: DEXTROSE\DEXTROSE MONOHYDRATE
     Dosage: 12.5 MG, QD
     Route: 042
  408. DEXTROSE [Suspect]
     Active Substance: DEXTROSE\DEXTROSE MONOHYDRATE
     Dosage: 12.5 MG, QD
     Route: 042
  409. DEXTROSE [Suspect]
     Active Substance: DEXTROSE\DEXTROSE MONOHYDRATE
     Dosage: 12.5 MG, QD
     Route: 042
  410. DEXTROSE [Suspect]
     Active Substance: DEXTROSE\DEXTROSE MONOHYDRATE
     Dosage: 12.5 MG, QD
     Route: 065
  411. DEXTROSE [Suspect]
     Active Substance: DEXTROSE\DEXTROSE MONOHYDRATE
     Dosage: 12.5 MG, QD
     Route: 065
  412. DEXTROSE [Suspect]
     Active Substance: DEXTROSE\DEXTROSE MONOHYDRATE
     Dosage: 12.5 MG, QD
     Route: 065
  413. DEXTROSE [Suspect]
     Active Substance: DEXTROSE\DEXTROSE MONOHYDRATE
     Indication: Product used for unknown indication
     Dosage: 12.5 MG
     Route: 042
  414. DEXTROSE [Suspect]
     Active Substance: DEXTROSE\DEXTROSE MONOHYDRATE
     Dosage: 12.5 MG
     Route: 065
  415. DEXTROSE [Suspect]
     Active Substance: DEXTROSE\DEXTROSE MONOHYDRATE
     Dosage: 12.5 MG
     Route: 065
  416. DEXTROSE [Suspect]
     Active Substance: DEXTROSE\DEXTROSE MONOHYDRATE
     Indication: Off label use
     Dosage: 12.5 MG, PRN
     Route: 042
  417. DEXTROSE [Suspect]
     Active Substance: DEXTROSE\DEXTROSE MONOHYDRATE
     Dosage: 250 ML, QD
     Route: 042
  418. DEXTROSE [Suspect]
     Active Substance: DEXTROSE\DEXTROSE MONOHYDRATE
     Dosage: 50 ML, QD
     Route: 042
  419. DEXTROSE [Suspect]
     Active Substance: DEXTROSE\DEXTROSE MONOHYDRATE
     Dosage: 50 ML, QD
     Route: 042
  420. DEXTROSE [Suspect]
     Active Substance: DEXTROSE\DEXTROSE MONOHYDRATE
     Dosage: 50 ML, QD
     Route: 065
  421. DEXTROSE [Suspect]
     Active Substance: DEXTROSE\DEXTROSE MONOHYDRATE
     Dosage: UNK
     Route: 042
  422. DEXTROSE [Suspect]
     Active Substance: DEXTROSE\DEXTROSE MONOHYDRATE
     Indication: Nutritional supplementation
     Dosage: UNK
     Route: 065
  423. DEXTROSE [Suspect]
     Active Substance: DEXTROSE\DEXTROSE MONOHYDRATE
     Dosage: UNK
     Route: 065
  424. NITROGLYCERIN [Suspect]
     Active Substance: NITROGLYCERIN
     Indication: Constipation
     Route: 065
  425. HERBALS\PAULLINIA CUPANA SEED [Suspect]
     Active Substance: HERBALS\PAULLINIA CUPANA SEED
     Dosage: 12.5 MG
     Route: 065
  426. HERBALS\PAULLINIA CUPANA SEED [Suspect]
     Active Substance: HERBALS\PAULLINIA CUPANA SEED
     Indication: Nutritional supplementation
     Dosage: UNK
     Route: 042
  427. HERBALS\PAULLINIA CUPANA SEED [Suspect]
     Active Substance: HERBALS\PAULLINIA CUPANA SEED
     Dosage: UNK
     Route: 042
  428. HERBALS\PAULLINIA CUPANA SEED [Suspect]
     Active Substance: HERBALS\PAULLINIA CUPANA SEED
     Indication: Product used for unknown indication
     Dosage: UNK
     Route: 065
  429. HEPARIN SODIUM [Suspect]
     Active Substance: HEPARIN SODIUM
     Dosage: 250 ML
     Route: 042
  430. HEPARIN SODIUM [Suspect]
     Active Substance: HEPARIN SODIUM
     Dosage: 250 ML, PRN
     Route: 042
  431. HEPARIN SODIUM [Suspect]
     Active Substance: HEPARIN SODIUM
     Dosage: 50 ML, QD
     Route: 042
  432. HEPARIN SODIUM [Suspect]
     Active Substance: HEPARIN SODIUM
     Dosage: 50 ML, QD
     Route: 065
  433. HEPARIN SODIUM [Suspect]
     Active Substance: HEPARIN SODIUM
     Dosage: 50 ML
     Route: 017
  434. HEPARIN SODIUM [Suspect]
     Active Substance: HEPARIN SODIUM
     Dosage: 50 ML
     Route: 042
  435. HEPARIN SODIUM [Suspect]
     Active Substance: HEPARIN SODIUM
     Indication: Anticoagulant therapy
     Dosage: 50 ML, PRN
     Route: 042
  436. HEPARIN SODIUM [Suspect]
     Active Substance: HEPARIN SODIUM
     Dosage: 50 ML, PRN
     Route: 042
  437. HEPARIN SODIUM [Suspect]
     Active Substance: HEPARIN SODIUM
     Dosage: UNK
     Route: 042
  438. HYDROMORPHONE [Suspect]
     Active Substance: HYDROMORPHONE
     Indication: Analgesic therapy
     Dosage: 1 MG, Q4H
     Route: 058
  439. HYDROMORPHONE [Suspect]
     Active Substance: HYDROMORPHONE
     Dosage: 1 MG, Q6H
     Route: 058
  440. HYDROMORPHONE [Suspect]
     Active Substance: HYDROMORPHONE
     Dosage: 1 MG, PRN
     Route: 058
  441. HYDROMORPHONE [Suspect]
     Active Substance: HYDROMORPHONE
     Dosage: 17 DOSAGE FORM
     Route: 065
  442. HYDROMORPHONE [Suspect]
     Active Substance: HYDROMORPHONE
     Dosage: 24 MG, QD
     Route: 058
  443. HYDROMORPHONE [Suspect]
     Active Substance: HYDROMORPHONE
     Dosage: 24 MG, QD
     Route: 058
  444. HYDROMORPHONE [Suspect]
     Active Substance: HYDROMORPHONE
     Dosage: 4 MG, Q4H
     Route: 058
  445. HYDROMORPHONE [Suspect]
     Active Substance: HYDROMORPHONE
     Dosage: 4 MG, Q6H
     Route: 058
  446. HYDROMORPHONE [Suspect]
     Active Substance: HYDROMORPHONE
     Dosage: 6 MG, Q4H
     Route: 058
  447. HYDROMORPHONE [Suspect]
     Active Substance: HYDROMORPHONE
     Dosage: 6 MG, Q6H
     Route: 058
  448. HYDROMORPHONE [Suspect]
     Active Substance: HYDROMORPHONE
     Dosage: 6 MG, Q6H
     Route: 058
  449. HYDROMORPHONE [Suspect]
     Active Substance: HYDROMORPHONE
     Dosage: 6 MG
     Route: 058
  450. HYDROMORPHONE [Suspect]
     Active Substance: HYDROMORPHONE
     Dosage: 6 MG
     Route: 058
  451. HYDROMORPHONE [Suspect]
     Active Substance: HYDROMORPHONE
     Dosage: 96 MG, QD
     Route: 058
  452. HYDROMORPHONE HYDROCHLORIDE [Suspect]
     Active Substance: HYDROMORPHONE HYDROCHLORIDE
     Indication: Analgesic therapy
     Dosage: 1 MG, QD
     Route: 058
  453. HYDROMORPHONE HYDROCHLORIDE [Suspect]
     Active Substance: HYDROMORPHONE HYDROCHLORIDE
     Dosage: 1 MG, Q4H
     Route: 058
  454. HYDROMORPHONE HYDROCHLORIDE [Suspect]
     Active Substance: HYDROMORPHONE HYDROCHLORIDE
     Dosage: 1 MG
     Route: 058
  455. HYDROMORPHONE HYDROCHLORIDE [Suspect]
     Active Substance: HYDROMORPHONE HYDROCHLORIDE
     Dosage: 1 MG (EVERY 6 DAYS)
     Route: 058
  456. HYDROMORPHONE HYDROCHLORIDE [Suspect]
     Active Substance: HYDROMORPHONE HYDROCHLORIDE
     Dosage: 17 MG, QD
     Route: 065
  457. HYDROMORPHONE HYDROCHLORIDE [Suspect]
     Active Substance: HYDROMORPHONE HYDROCHLORIDE
     Dosage: 24 MG, QD
     Route: 058
  458. HYDROMORPHONE HYDROCHLORIDE [Suspect]
     Active Substance: HYDROMORPHONE HYDROCHLORIDE
     Dosage: 24 MG, Q4H
     Route: 058
  459. HYDROMORPHONE HYDROCHLORIDE [Suspect]
     Active Substance: HYDROMORPHONE HYDROCHLORIDE
     Dosage: 24 MG, Q6H
     Route: 058
  460. HYDROMORPHONE HYDROCHLORIDE [Suspect]
     Active Substance: HYDROMORPHONE HYDROCHLORIDE
     Indication: Off label use
     Dosage: 4 MG, Q4H
     Route: 058
  461. HYDROMORPHONE HYDROCHLORIDE [Suspect]
     Active Substance: HYDROMORPHONE HYDROCHLORIDE
     Dosage: 4 MG, Q4H
     Route: 058
  462. HYDROMORPHONE HYDROCHLORIDE [Suspect]
     Active Substance: HYDROMORPHONE HYDROCHLORIDE
     Dosage: 6 MG, Q4H
     Route: 058
  463. HYDROMORPHONE HYDROCHLORIDE [Suspect]
     Active Substance: HYDROMORPHONE HYDROCHLORIDE
     Dosage: 6 MG, Q5H
     Route: 058
  464. HYDROMORPHONE HYDROCHLORIDE [Suspect]
     Active Substance: HYDROMORPHONE HYDROCHLORIDE
     Dosage: 6 MG, Q6H
     Route: 058
  465. HYDROMORPHONE HYDROCHLORIDE [Suspect]
     Active Substance: HYDROMORPHONE HYDROCHLORIDE
     Dosage: 6 MG
     Route: 058
  466. HYDROMORPHONE HYDROCHLORIDE [Suspect]
     Active Substance: HYDROMORPHONE HYDROCHLORIDE
     Dosage: 96 MG, QD
     Route: 058
  467. HYDROMORPHONE HYDROCHLORIDE [Suspect]
     Active Substance: HYDROMORPHONE HYDROCHLORIDE
     Dosage: UNK
     Route: 065
  468. HEPARIN CALCIUM [Suspect]
     Active Substance: HEPARIN CALCIUM
     Dosage: 250 MG
     Route: 042
  469. HEPARIN CALCIUM [Suspect]
     Active Substance: HEPARIN CALCIUM
     Dosage: 50 ML,
     Route: 042
  470. HEPARIN CALCIUM [Suspect]
     Active Substance: HEPARIN CALCIUM
     Dosage: 50 ML,
     Route: 042
  471. HEPARIN CALCIUM [Suspect]
     Active Substance: HEPARIN CALCIUM
     Dosage: 50 ML,
     Route: 042
  472. HEPARIN CALCIUM [Suspect]
     Active Substance: HEPARIN CALCIUM
     Dosage: 50 ML, PRN
     Route: 042
  473. HEPARIN CALCIUM [Suspect]
     Active Substance: HEPARIN CALCIUM
     Indication: Anticoagulant therapy
     Dosage: 50 ML, PRN
     Route: 042
  474. HEPARIN CALCIUM [Suspect]
     Active Substance: HEPARIN CALCIUM
     Dosage: 50 ML, PRN
     Route: 042
  475. HEPARIN CALCIUM [Suspect]
     Active Substance: HEPARIN CALCIUM
     Dosage: 50 ML, PRN
     Route: 042
  476. HEPARIN CALCIUM [Suspect]
     Active Substance: HEPARIN CALCIUM
     Dosage: UNK
     Route: 065
  477. UNSPECIFIED INGREDIENT [Suspect]
     Active Substance: UNSPECIFIED INGREDIENT
     Indication: Nutritional supplementation
     Dosage: UNK
     Route: 042
  478. UNSPECIFIED INGREDIENT [Suspect]
     Active Substance: UNSPECIFIED INGREDIENT
     Indication: Anticoagulant therapy
  479. HORSE CHESTNUT [Suspect]
     Active Substance: HORSE CHESTNUT
     Indication: Product used for unknown indication
     Dosage: UNK
     Route: 065
  480. HYDROCORTISONE [Suspect]
     Active Substance: HYDROCORTISONE\HYDROCORTISONE ACETATE
     Indication: Angioedema
     Dosage: UNK
     Route: 065
  481. HYDROCORTISONE [Suspect]
     Active Substance: HYDROCORTISONE\HYDROCORTISONE ACETATE
     Indication: Product used for unknown indication
  482. INSULIN ASPART [Suspect]
     Active Substance: INSULIN ASPART
     Dosage: UNK
     Route: 048
  483. INSULIN ASPART [Suspect]
     Active Substance: INSULIN ASPART
     Dosage: UNK
     Route: 048
  484. INSULIN ASPART [Suspect]
     Active Substance: INSULIN ASPART
     Dosage: UNK
     Route: 048
  485. INSULIN ASPART [Suspect]
     Active Substance: INSULIN ASPART
     Dosage: UNK
     Route: 048
  486. INSULIN ASPART [Suspect]
     Active Substance: INSULIN ASPART
     Indication: Diabetes mellitus
     Dosage: UNK
     Route: 058
  487. INSULIN ASPART [Suspect]
     Active Substance: INSULIN ASPART
     Dosage: UNK
     Route: 058
  488. INSULIN ASPART [Suspect]
     Active Substance: INSULIN ASPART
     Dosage: UNK
     Route: 058
  489. INSULIN ASPART [Suspect]
     Active Substance: INSULIN ASPART
     Dosage: UNK
     Route: 058
  490. INSULIN ASPART [Suspect]
     Active Substance: INSULIN ASPART
     Dosage: UNK
     Route: 058
  491. INSULIN ASPART [Suspect]
     Active Substance: INSULIN ASPART
     Dosage: UNK
     Route: 058
  492. INSULIN ASPART [Suspect]
     Active Substance: INSULIN ASPART
     Dosage: UNK
     Route: 058
  493. INSULIN ASPART [Suspect]
     Active Substance: INSULIN ASPART
     Dosage: UNK
     Route: 065
  494. INSULIN ASPART [Suspect]
     Active Substance: INSULIN ASPART
     Dosage: UNK
     Route: 065
  495. INSULIN ASPART [Suspect]
     Active Substance: INSULIN ASPART
     Dosage: UNK
     Route: 065
  496. INSULIN ASPART [Suspect]
     Active Substance: INSULIN ASPART
     Dosage: UNK
     Route: 065
  497. INSULIN ASPART [Suspect]
     Active Substance: INSULIN ASPART
     Dosage: UNK
     Route: 065
  498. INSULIN ASPART [Suspect]
     Active Substance: INSULIN ASPART
     Dosage: UNK
     Route: 065
  499. INSULIN ASPART [Suspect]
     Active Substance: INSULIN ASPART
     Dosage: UNK
     Route: 065
  500. INSULIN ASPART [Suspect]
     Active Substance: INSULIN ASPART
     Dosage: UNK
     Route: 065
  501. INSULIN ASPART [Suspect]
     Active Substance: INSULIN ASPART
     Dosage: UNK
     Route: 065
  502. INSULIN ASPART [Suspect]
     Active Substance: INSULIN ASPART
     Dosage: UNK
     Route: 065
  503. INSULIN ASPART [Suspect]
     Active Substance: INSULIN ASPART
     Dosage: UNK
     Route: 065
  504. INSULIN ASPART [Suspect]
     Active Substance: INSULIN ASPART
     Dosage: UNK
     Route: 065
  505. INSULIN DEGLUDEC [Suspect]
     Active Substance: INSULIN DEGLUDEC
     Dosage: 1 DOSAGE FORM, QD
     Route: 058
  506. INSULIN DEGLUDEC [Suspect]
     Active Substance: INSULIN DEGLUDEC
     Indication: Diabetes mellitus
     Dosage: 1 DOSAGE FORM
     Route: 058
  507. INSULIN DEGLUDEC [Suspect]
     Active Substance: INSULIN DEGLUDEC
     Dosage: UNK
     Route: 058
  508. INSULIN DEGLUDEC [Suspect]
     Active Substance: INSULIN DEGLUDEC
     Dosage: UNK
     Route: 058
  509. INSULIN DEGLUDEC [Suspect]
     Active Substance: INSULIN DEGLUDEC
     Dosage: UNK
     Route: 058
  510. INSULIN DEGLUDEC [Suspect]
     Active Substance: INSULIN DEGLUDEC
     Dosage: UNK
     Route: 058
  511. INSULIN DEGLUDEC [Suspect]
     Active Substance: INSULIN DEGLUDEC
     Indication: Product used for unknown indication
     Dosage: UNK
     Route: 065
  512. INSULIN DEGLUDEC [Suspect]
     Active Substance: INSULIN DEGLUDEC
     Dosage: UNK
     Route: 065
  513. IPRATROPIUM [Suspect]
     Active Substance: IPRATROPIUM
     Dosage: 1 DOSAGE FORM, QD
     Route: 050
  514. IPRATROPIUM [Suspect]
     Active Substance: IPRATROPIUM
     Dosage: 1 DOSAGE FORM, QD
     Route: 055
  515. IPRATROPIUM [Suspect]
     Active Substance: IPRATROPIUM
     Dosage: 1 DOSAGE FORM, Q6H
     Route: 055
  516. IPRATROPIUM [Suspect]
     Active Substance: IPRATROPIUM
     Dosage: 1 DOSAGE FORM, Q6H
     Route: 065
  517. IPRATROPIUM [Suspect]
     Active Substance: IPRATROPIUM
     Dosage: 1 DOSAGE FORM, Q8H
     Route: 065
  518. IPRATROPIUM [Suspect]
     Active Substance: IPRATROPIUM
     Dosage: 1 DF
     Route: 065
  519. IPRATROPIUM [Suspect]
     Active Substance: IPRATROPIUM
     Dosage: 1 DF
     Route: 065
  520. IPRATROPIUM [Suspect]
     Active Substance: IPRATROPIUM
     Dosage: 1 DF, 4 EVERY 1 DAYS
     Route: 065
  521. IPRATROPIUM [Suspect]
     Active Substance: IPRATROPIUM
     Dosage: 1 DOSAGE FORM
     Route: 065
  522. IPRATROPIUM [Suspect]
     Active Substance: IPRATROPIUM
     Dosage: UNK, QD
     Route: 050
  523. IPRATROPIUM [Suspect]
     Active Substance: IPRATROPIUM
     Dosage: UNK, QD
     Route: 055
  524. IPRATROPIUM [Suspect]
     Active Substance: IPRATROPIUM
     Dosage: UNK, QD
     Route: 065
  525. IPRATROPIUM [Suspect]
     Active Substance: IPRATROPIUM
     Dosage: UNK, QD
     Route: 055
  526. IPRATROPIUM [Suspect]
     Active Substance: IPRATROPIUM
     Indication: Dyspnoea
     Dosage: UNK
     Route: 045
  527. IPRATROPIUM [Suspect]
     Active Substance: IPRATROPIUM
     Dosage: UNK
     Route: 048
  528. IPRATROPIUM [Suspect]
     Active Substance: IPRATROPIUM
     Dosage: UNK
     Route: 065
  529. IPRATROPIUM BROMIDE [Suspect]
     Active Substance: IPRATROPIUM BROMIDE\IPRATROPIUM BROMIDE ANHYDROUS
     Indication: Sleep disorder therapy
     Dosage: UNK, Q6H
     Route: 055
  530. IPRATROPIUM BROMIDE [Suspect]
     Active Substance: IPRATROPIUM BROMIDE\IPRATROPIUM BROMIDE ANHYDROUS
     Indication: Off label use
     Dosage: UNK
     Route: 055
  531. IPRATROPIUM BROMIDE [Suspect]
     Active Substance: IPRATROPIUM BROMIDE\IPRATROPIUM BROMIDE ANHYDROUS
     Indication: Dyspnoea
     Dosage: UNK
     Route: 065
  532. IPRATROPIUM BROMIDE [Suspect]
     Active Substance: IPRATROPIUM BROMIDE\IPRATROPIUM BROMIDE ANHYDROUS
     Indication: Intentional product misuse
     Dosage: UNK
     Route: 065
  533. IPRATROPIUM BROMIDE\XYLOMETAZOLINE HYDROCHLORIDE [Suspect]
     Active Substance: IPRATROPIUM BROMIDE\XYLOMETAZOLINE HYDROCHLORIDE
     Dosage: UNK
     Route: 065
  534. IPRATROPIUM BROMIDE\XYLOMETAZOLINE HYDROCHLORIDE [Suspect]
     Active Substance: IPRATROPIUM BROMIDE\XYLOMETAZOLINE HYDROCHLORIDE
     Indication: Dyspnoea
     Route: 055
  535. IRON [Suspect]
     Active Substance: IRON
     Indication: Iron deficiency
     Dosage: 1 DF, Q6H
     Route: 042
  536. IRON [Suspect]
     Active Substance: IRON
     Dosage: 1 DF, Q6H
     Route: 065
  537. HYDROMORPHONE HYDROCHLORIDE [Suspect]
     Active Substance: HYDROMORPHONE HYDROCHLORIDE
     Indication: Analgesic therapy
     Dosage: UNK
     Route: 065
  538. PANAX GINSENG WHOLE [Suspect]
     Active Substance: PANAX GINSENG WHOLE
     Indication: Nutritional supplementation
     Dosage: 12 MG
     Route: 065
  539. LANSOPRAZOLE [Suspect]
     Active Substance: LANSOPRAZOLE
     Indication: Antacid therapy
     Dosage: 30 MG, QD
     Route: 048
  540. LANSOPRAZOLE [Suspect]
     Active Substance: LANSOPRAZOLE
     Dosage: 30 MG, QD, DELAYED RELEASE
     Route: 065
  541. LANSOPRAZOLE [Suspect]
     Active Substance: LANSOPRAZOLE
     Indication: Intentional product misuse
     Dosage: UNK UNK, QD
     Route: 048
  542. LANSOPRAZOLE [Suspect]
     Active Substance: LANSOPRAZOLE
     Indication: Off label use
     Dosage: UNK UNK, QD
     Route: 048
  543. LANSOPRAZOLE [Suspect]
     Active Substance: LANSOPRAZOLE
     Dosage: UNK
     Route: 065
  544. LANTHANUM CARBONATE [Suspect]
     Active Substance: LANTHANUM CARBONATE
     Indication: Product used for unknown indication
     Dosage: ORAL
     Route: 048
  545. LANTHANUM CARBONATE [Suspect]
     Active Substance: LANTHANUM CARBONATE
     Dosage: ORAL
     Route: 065
  546. LANTHANUM CARBONATE [Suspect]
     Active Substance: LANTHANUM CARBONATE
     Dosage: 500 MG
     Route: 048
  547. LANTHANUM CARBONATE [Suspect]
     Active Substance: LANTHANUM CARBONATE
     Dosage: ORAL
     Route: 048
  548. LANTHANUM CARBONATE [Suspect]
     Active Substance: LANTHANUM CARBONATE
     Dosage: ORAL
     Route: 065
  549. LANTHANUM CARBONATE [Suspect]
     Active Substance: LANTHANUM CARBONATE
     Dosage: ORAL
     Route: 048
  550. LEVOPHED [Suspect]
     Active Substance: NOREPINEPHRINE BITARTRATE
     Indication: Stress
     Dosage: 3 MG, QD
     Route: 048
  551. LEVOPHED [Suspect]
     Active Substance: NOREPINEPHRINE BITARTRATE
     Dosage: UNK
     Route: 042
  552. LEVOPHED [Suspect]
     Active Substance: NOREPINEPHRINE BITARTRATE
     Dosage: UNK
     Route: 048
  553. LIDOCAINE HYDROCHLORIDE [Suspect]
     Active Substance: LIDOCAINE HYDROCHLORIDE
     Indication: Ventricular fibrillation
     Dosage: 133 ML
     Route: 065
  554. LIDOCAINE HYDROCHLORIDE [Suspect]
     Active Substance: LIDOCAINE HYDROCHLORIDE
     Indication: Constipation
     Dosage: UNK
     Route: 065
  555. LYPRESSIN [Suspect]
     Active Substance: LYPRESSIN
     Indication: Drug therapy
     Route: 042
  556. METRONIDAZOLE [Suspect]
     Active Substance: METRONIDAZOLE
     Dosage: 1 MG
     Route: 065
  557. METRONIDAZOLE [Suspect]
     Active Substance: METRONIDAZOLE
     Dosage: 1500 MG, QD
     Route: 048
  558. METRONIDAZOLE [Suspect]
     Active Substance: METRONIDAZOLE
     Dosage: 1500 MG, Q8H
     Route: 048
  559. METRONIDAZOLE [Suspect]
     Active Substance: METRONIDAZOLE
     Dosage: 1500 MG, QD
     Route: 048
  560. METRONIDAZOLE [Suspect]
     Active Substance: METRONIDAZOLE
     Dosage: 1500 MG
     Route: 048
  561. METRONIDAZOLE [Suspect]
     Active Substance: METRONIDAZOLE
     Dosage: 1500 MG
     Route: 048
  562. METRONIDAZOLE [Suspect]
     Active Substance: METRONIDAZOLE
     Dosage: 1500 MG
     Route: 048
  563. METRONIDAZOLE [Suspect]
     Active Substance: METRONIDAZOLE
     Dosage: 1500 MG
     Route: 048
  564. METRONIDAZOLE [Suspect]
     Active Substance: METRONIDAZOLE
     Dosage: 1500 MG
     Route: 048
  565. METRONIDAZOLE [Suspect]
     Active Substance: METRONIDAZOLE
     Dosage: 1500 MG, QD
     Route: 048
  566. METRONIDAZOLE [Suspect]
     Active Substance: METRONIDAZOLE
     Dosage: 1500 MG, QD
     Route: 048
  567. METRONIDAZOLE [Suspect]
     Active Substance: METRONIDAZOLE
     Dosage: 1500 MG, QD
     Route: 048
  568. METRONIDAZOLE [Suspect]
     Active Substance: METRONIDAZOLE
     Dosage: 1500 MG, QD
     Route: 048
  569. METRONIDAZOLE [Suspect]
     Active Substance: METRONIDAZOLE
     Dosage: 1500 MG, QD
     Route: 048
  570. METRONIDAZOLE [Suspect]
     Active Substance: METRONIDAZOLE
     Dosage: 1500 UG, QD
     Route: 048
  571. METRONIDAZOLE [Suspect]
     Active Substance: METRONIDAZOLE
     Dosage: 4500 MG, QD
     Route: 048
  572. METRONIDAZOLE [Suspect]
     Active Substance: METRONIDAZOLE
     Dosage: 4500 MG
     Route: 048
  573. METRONIDAZOLE [Suspect]
     Active Substance: METRONIDAZOLE
     Dosage: 500 MG, QD
     Route: 048
  574. METRONIDAZOLE [Suspect]
     Active Substance: METRONIDAZOLE
     Indication: Off label use
     Dosage: 500 MG, Q8H
     Route: 048
  575. METRONIDAZOLE [Suspect]
     Active Substance: METRONIDAZOLE
     Indication: Bacterial infection
     Dosage: 500 MG, Q8H
     Route: 065
  576. METRONIDAZOLE [Suspect]
     Active Substance: METRONIDAZOLE
     Indication: Intentional product misuse
     Dosage: 500 MG, TID
     Route: 048
  577. METRONIDAZOLE [Suspect]
     Active Substance: METRONIDAZOLE
     Dosage: 500 MG
     Route: 048
  578. METRONIDAZOLE [Suspect]
     Active Substance: METRONIDAZOLE
     Dosage: 500 MG
     Route: 048
  579. METRONIDAZOLE [Suspect]
     Active Substance: METRONIDAZOLE
     Dosage: 500 MG
     Route: 048
  580. METRONIDAZOLE [Suspect]
     Active Substance: METRONIDAZOLE
     Dosage: 500 MG, QD
     Route: 048
  581. METRONIDAZOLE [Suspect]
     Active Substance: METRONIDAZOLE
     Dosage: 500 MG, QD
     Route: 048
  582. METRONIDAZOLE [Suspect]
     Active Substance: METRONIDAZOLE
     Dosage: 500 UG, QD
     Route: 048
  583. METRONIDAZOLE [Suspect]
     Active Substance: METRONIDAZOLE
     Dosage: 500 UG, QD
     Route: 048
  584. METRONIDAZOLE [Suspect]
     Active Substance: METRONIDAZOLE
     Dosage: 500 UG, TID
     Route: 048
  585. METRONIDAZOLE [Suspect]
     Active Substance: METRONIDAZOLE
     Dosage: 500 UG, TID
     Route: 048
  586. METRONIDAZOLE [Suspect]
     Active Substance: METRONIDAZOLE
     Dosage: 500 UG, TID (1 EVERY 8 HOURS)
     Route: 048
  587. METRONIDAZOLE [Suspect]
     Active Substance: METRONIDAZOLE
     Dosage: 500 UG
     Route: 048
  588. METRONIDAZOLE [Suspect]
     Active Substance: METRONIDAZOLE
     Dosage: UNK, Q3H
     Route: 048
  589. METRONIDAZOLE [Suspect]
     Active Substance: METRONIDAZOLE
     Dosage: UNK, Q3H
     Route: 048
  590. METRONIDAZOLE [Suspect]
     Active Substance: METRONIDAZOLE
     Dosage: UNK, Q8H
     Route: 065
  591. METRONIDAZOLE [Suspect]
     Active Substance: METRONIDAZOLE
     Dosage: UNK, TID
     Route: 065
  592. METRONIDAZOLE [Suspect]
     Active Substance: METRONIDAZOLE
     Dosage: UNK
     Route: 048
  593. METRONIDAZOLE [Suspect]
     Active Substance: METRONIDAZOLE
     Dosage: UNK
     Route: 048
  594. METRONIDAZOLE [Suspect]
     Active Substance: METRONIDAZOLE
     Dosage: UNK, 1 EVERY 3 HOURS
     Route: 048
  595. METRONIDAZOLE [Suspect]
     Active Substance: METRONIDAZOLE
     Dosage: UNK, 1 EVERY 3 HOURS
     Route: 048
  596. MAALOX ANTACID [Suspect]
     Active Substance: ALUMINUM HYDROXIDE\DIMETHICONE\MAGNESIUM HYDROXIDE
     Dosage: 133 MG
     Route: 054
  597. MAALOX ANTACID [Suspect]
     Active Substance: ALUMINUM HYDROXIDE\DIMETHICONE\MAGNESIUM HYDROXIDE
     Indication: Constipation
     Dosage: 133 MG
     Route: 065
  598. MAALOX ANTACID [Suspect]
     Active Substance: ALUMINUM HYDROXIDE\DIMETHICONE\MAGNESIUM HYDROXIDE
     Dosage: 133 ML
     Route: 054
  599. MAALOX ANTACID [Suspect]
     Active Substance: ALUMINUM HYDROXIDE\DIMETHICONE\MAGNESIUM HYDROXIDE
     Dosage: 133 ML
     Route: 054
  600. POLYETHYLENE GLYCOLS [Suspect]
     Active Substance: POLYETHYLENE GLYCOLS
     Dosage: 17 G, QD
     Route: 048
  601. POLYETHYLENE GLYCOLS [Suspect]
     Active Substance: POLYETHYLENE GLYCOLS
     Dosage: 17 G, QD
     Route: 048
  602. POLYETHYLENE GLYCOLS [Suspect]
     Active Substance: POLYETHYLENE GLYCOLS
     Dosage: 17 MG, QD
     Route: 048
  603. POLYETHYLENE GLYCOLS [Suspect]
     Active Substance: POLYETHYLENE GLYCOLS
     Dosage: 17 MG
     Route: 048
  604. POLYETHYLENE GLYCOLS [Suspect]
     Active Substance: POLYETHYLENE GLYCOLS
     Dosage: 2.5 ML
     Route: 042
  605. POLYETHYLENE GLYCOLS [Suspect]
     Active Substance: POLYETHYLENE GLYCOLS
     Indication: Constipation
     Dosage: 3 MG, QW
     Route: 048
  606. POLYETHYLENE GLYCOLS [Suspect]
     Active Substance: POLYETHYLENE GLYCOLS
     Dosage: UNK, QD
     Route: 048
  607. POLYETHYLENE GLYCOL 3350 [Suspect]
     Active Substance: POLYETHYLENE GLYCOL 3350
     Indication: Constipation
     Dosage: 16 G, QD
     Route: 048
  608. POLYETHYLENE GLYCOL 3350 [Suspect]
     Active Substance: POLYETHYLENE GLYCOL 3350
     Dosage: 17 G, QD
     Route: 048
  609. POLYETHYLENE GLYCOL 3350 [Suspect]
     Active Substance: POLYETHYLENE GLYCOL 3350
     Dosage: 3 MG, QW
     Route: 048
  610. POLYETHYLENE GLYCOL 3350 [Suspect]
     Active Substance: POLYETHYLENE GLYCOL 3350
     Dosage: UNK
     Route: 048
  611. MAGNESIUM CARBONATE [Suspect]
     Active Substance: MAGNESIUM CARBONATE
     Indication: Constipation
     Dosage: 133 ML, PRN
     Route: 065
  612. MAGNESIUM OXIDE [Suspect]
     Active Substance: MAGNESIUM OXIDE
     Indication: Constipation
     Dosage: 133 ML
     Route: 054
  613. MAGNESIUM OXIDE [Suspect]
     Active Substance: MAGNESIUM OXIDE
     Dosage: 133 ML
     Route: 054
  614. MAGNESIUM OXIDE [Suspect]
     Active Substance: MAGNESIUM OXIDE
     Dosage: 133 ML
     Route: 054
  615. MAGNESIUM OXIDE [Suspect]
     Active Substance: MAGNESIUM OXIDE
     Dosage: 133 ML
     Route: 054
  616. MAGNESIUM OXIDE [Suspect]
     Active Substance: MAGNESIUM OXIDE
     Dosage: UNK
     Route: 065
  617. MALTOSE [Suspect]
     Active Substance: MALTOSE
     Indication: Nutritional supplementation
     Dosage: 12.5 G
     Route: 042
  618. MANNITOL [Suspect]
     Active Substance: MANNITOL
     Indication: Nutritional supplementation
     Dosage: 12.5 G
     Route: 042
  619. MANNITOL [Suspect]
     Active Substance: MANNITOL
     Indication: Product used for unknown indication
     Dosage: 3 MG, QD
     Route: 048
  620. MANNITOL [Suspect]
     Active Substance: MANNITOL
     Dosage: 3 MG, QD
     Route: 048
  621. MANNITOL [Suspect]
     Active Substance: MANNITOL
     Indication: Off label use
     Dosage: 3 MG,
     Route: 048
  622. MANNITOL [Suspect]
     Active Substance: MANNITOL
     Indication: Sleep disorder therapy
     Dosage: UNK
     Route: 042
  623. MANNITOL [Suspect]
     Active Substance: MANNITOL
     Dosage: UNK
     Route: 048
  624. MANNITOL [Suspect]
     Active Substance: MANNITOL
     Dosage: UNK
     Route: 065
  625. MELATONIN [Suspect]
     Active Substance: MELATONIN
     Dosage: 3 MG, QW
     Route: 048
  626. MELATONIN [Suspect]
     Active Substance: MELATONIN
     Dosage: 3 MG, QD
     Route: 048
  627. MELATONIN [Suspect]
     Active Substance: MELATONIN
     Indication: Sleep disorder therapy
     Dosage: 3 MG
     Route: 048
  628. MELATONIN [Suspect]
     Active Substance: MELATONIN
     Dosage: 3 MG
     Route: 048
  629. MELATONIN [Suspect]
     Active Substance: MELATONIN
     Dosage: 3 MG
     Route: 048
  630. MELATONIN [Suspect]
     Active Substance: MELATONIN
     Dosage: UNK
     Route: 048
  631. MELATONIN [Suspect]
     Active Substance: MELATONIN
     Dosage: UNK
     Route: 065
  632. METAMIZOLE SODIUM [Suspect]
     Active Substance: METAMIZOLE SODIUM
     Dosage: 5 MG, QD
     Route: 042
  633. METAMIZOLE SODIUM [Suspect]
     Active Substance: METAMIZOLE SODIUM
     Indication: Vitamin supplementation
     Dosage: 5 MG
     Route: 042
  634. METAMIZOLE SODIUM [Suspect]
     Active Substance: METAMIZOLE SODIUM
     Dosage: 5 MG
     Route: 042
  635. MONOFERRIC [Suspect]
     Active Substance: FERRIC DERISOMALTOSE
     Indication: Nutritional supplementation
     Dosage: 12.5 G
     Route: 042
  636. SODIUM PHOSPHATE, MONOBASIC [Suspect]
     Active Substance: SODIUM PHOSPHATE, MONOBASIC
     Indication: Constipation
     Dosage: 133 ML
     Route: 054
  637. SODIUM PHOSPHATE, MONOBASIC [Suspect]
     Active Substance: SODIUM PHOSPHATE, MONOBASIC
     Dosage: 133 ML
     Route: 054
  638. SODIUM PHOSPHATE, MONOBASIC [Suspect]
     Active Substance: SODIUM PHOSPHATE, MONOBASIC
     Dosage: UNK ML
     Route: 054
  639. SODIUM PHOSPHATE, MONOBASIC [Suspect]
     Active Substance: SODIUM PHOSPHATE, MONOBASIC
     Dosage: UNK ML
     Route: 065
  640. NOREPINEPHRINE BITARTRATE [Suspect]
     Active Substance: NOREPINEPHRINE BITARTRATE
     Dosage: 1 MG
     Route: 048
  641. NOREPINEPHRINE BITARTRATE [Suspect]
     Active Substance: NOREPINEPHRINE BITARTRATE
     Dosage: 1 DF, QD
     Route: 042
  642. NOREPINEPHRINE BITARTRATE [Suspect]
     Active Substance: NOREPINEPHRINE BITARTRATE
     Dosage: 1 DF, QD
     Route: 048
  643. NOREPINEPHRINE BITARTRATE [Suspect]
     Active Substance: NOREPINEPHRINE BITARTRATE
     Dosage: 1 DF, QD
     Route: 065
  644. NOREPINEPHRINE BITARTRATE [Suspect]
     Active Substance: NOREPINEPHRINE BITARTRATE
     Indication: Off label use
     Dosage: 1 DOSAGE FORM, QD
     Route: 048
  645. NOREPINEPHRINE BITARTRATE [Suspect]
     Active Substance: NOREPINEPHRINE BITARTRATE
     Dosage: 1 DF
     Route: 042
  646. NOREPINEPHRINE BITARTRATE [Suspect]
     Active Substance: NOREPINEPHRINE BITARTRATE
     Indication: Intentional product misuse
     Dosage: 3 MG, QD
     Route: 048
  647. NOREPINEPHRINE BITARTRATE [Suspect]
     Active Substance: NOREPINEPHRINE BITARTRATE
     Dosage: 3 MG, QD
     Route: 048
  648. NOREPINEPHRINE BITARTRATE [Suspect]
     Active Substance: NOREPINEPHRINE BITARTRATE
     Dosage: 3 MG, QD
     Route: 042
  649. NOREPINEPHRINE BITARTRATE [Suspect]
     Active Substance: NOREPINEPHRINE BITARTRATE
     Dosage: 3 MG, QD
     Route: 048
  650. NOREPINEPHRINE BITARTRATE [Suspect]
     Active Substance: NOREPINEPHRINE BITARTRATE
     Dosage: 3 MG
     Route: 042
  651. NOREPINEPHRINE BITARTRATE [Suspect]
     Active Substance: NOREPINEPHRINE BITARTRATE
     Dosage: 3 MG
     Route: 065
  652. NOREPINEPHRINE BITARTRATE [Suspect]
     Active Substance: NOREPINEPHRINE BITARTRATE
     Dosage: UNK UNK, QD
     Route: 048
  653. NOREPINEPHRINE BITARTRATE [Suspect]
     Active Substance: NOREPINEPHRINE BITARTRATE
     Indication: Stress
     Dosage: UNK
     Route: 042
  654. NOREPINEPHRINE BITARTRATE [Suspect]
     Active Substance: NOREPINEPHRINE BITARTRATE
     Dosage: UNK
     Route: 042
  655. NOREPINEPHRINE BITARTRATE [Suspect]
     Active Substance: NOREPINEPHRINE BITARTRATE
     Dosage: UNK
     Route: 048
  656. NOREPINEPHRINE BITARTRATE [Suspect]
     Active Substance: NOREPINEPHRINE BITARTRATE
     Dosage: UNK
     Route: 048
  657. NOREPINEPHRINE BITARTRATE [Suspect]
     Active Substance: NOREPINEPHRINE BITARTRATE
     Dosage: UNK
     Route: 065
  658. NOREPINEPHRINE BITARTRATE [Suspect]
     Active Substance: NOREPINEPHRINE BITARTRATE
     Dosage: UNK
     Route: 065
  659. NOREPINEPHRINE BITARTRATE [Suspect]
     Active Substance: NOREPINEPHRINE BITARTRATE
     Dosage: UNK
     Route: 065
  660. NOREPINEPHRINE BITARTRATE [Suspect]
     Active Substance: NOREPINEPHRINE BITARTRATE
     Dosage: UNK, ONCE
     Route: 042
  661. DIETARY SUPPLEMENT [Suspect]
     Active Substance: DIETARY SUPPLEMENT
     Dosage: 17 MG, QD
     Route: 042
  662. DIETARY SUPPLEMENT [Suspect]
     Active Substance: DIETARY SUPPLEMENT
     Indication: Vitamin supplementation
     Dosage: 5 MG, QD
     Route: 042
  663. DIETARY SUPPLEMENT [Suspect]
     Active Substance: DIETARY SUPPLEMENT
     Dosage: UNK
     Route: 065
  664. NOVORAPID [Suspect]
     Active Substance: INSULIN ASPART
     Dosage: 6.0 ARBITRARY UNIT
     Route: 058
  665. NOVORAPID [Suspect]
     Active Substance: INSULIN ASPART
     Dosage: UNK
     Route: 048
  666. NOVORAPID [Suspect]
     Active Substance: INSULIN ASPART
     Indication: Diabetes mellitus
     Dosage: UNK
     Route: 058
  667. NOVORAPID [Suspect]
     Active Substance: INSULIN ASPART
     Indication: Off label use
     Dosage: UNK
     Route: 058
  668. NOVORAPID [Suspect]
     Active Substance: INSULIN ASPART
     Indication: Product used for unknown indication
     Dosage: UNK
     Route: 058
  669. NOVORAPID [Suspect]
     Active Substance: INSULIN ASPART
     Dosage: UNK
     Route: 058
  670. ONDANSETRON [Suspect]
     Active Substance: ONDANSETRON
     Dosage: 1 DF, QD
     Route: 042
  671. ONDANSETRON [Suspect]
     Active Substance: ONDANSETRON
     Dosage: 1 DF, Q6H
     Route: 042
  672. ONDANSETRON [Suspect]
     Active Substance: ONDANSETRON
     Dosage: 1 DOSAGE FORM, Q8H
     Route: 042
  673. ONDANSETRON [Suspect]
     Active Substance: ONDANSETRON
     Dosage: 1 DOSAGE FORM, Q8H
     Route: 042
  674. ONDANSETRON [Suspect]
     Active Substance: ONDANSETRON
     Dosage: 1 DF
     Route: 042
  675. ONDANSETRON [Suspect]
     Active Substance: ONDANSETRON
     Dosage: 1 DF
     Route: 065
  676. ONDANSETRON [Suspect]
     Active Substance: ONDANSETRON
     Dosage: 1 DF
     Route: 065
  677. ONDANSETRON [Suspect]
     Active Substance: ONDANSETRON
     Dosage: 1 DOSAGE FORM
     Route: 042
  678. ONDANSETRON [Suspect]
     Active Substance: ONDANSETRON
     Dosage: 108 MG
     Route: 042
  679. ONDANSETRON [Suspect]
     Active Substance: ONDANSETRON
     Dosage: 12 MG, QD
     Route: 042
  680. ONDANSETRON [Suspect]
     Active Substance: ONDANSETRON
     Dosage: 12 MG, QD
     Route: 065
  681. ONDANSETRON [Suspect]
     Active Substance: ONDANSETRON
     Dosage: 12 MG, Q8H
     Route: 042
  682. ONDANSETRON [Suspect]
     Active Substance: ONDANSETRON
     Dosage: 12 MG, Q8H
     Route: 042
  683. ONDANSETRON [Suspect]
     Active Substance: ONDANSETRON
     Dosage: 12 MG, Q8H
     Route: 065
  684. ONDANSETRON [Suspect]
     Active Substance: ONDANSETRON
     Dosage: 12 MG, Q8H
     Route: 065
  685. ONDANSETRON [Suspect]
     Active Substance: ONDANSETRON
     Dosage: 12 MG, TID
     Route: 042
  686. ONDANSETRON [Suspect]
     Active Substance: ONDANSETRON
     Dosage: 12 MG
     Route: 042
  687. ONDANSETRON [Suspect]
     Active Substance: ONDANSETRON
     Dosage: 12 MG
     Route: 042
  688. ONDANSETRON [Suspect]
     Active Substance: ONDANSETRON
     Dosage: 12 MG
     Route: 065
  689. ONDANSETRON [Suspect]
     Active Substance: ONDANSETRON
     Dosage: 14.14 MG, Q8H
     Route: 065
  690. ONDANSETRON [Suspect]
     Active Substance: ONDANSETRON
     Dosage: 17 MG, QD
     Route: 048
  691. ONDANSETRON [Suspect]
     Active Substance: ONDANSETRON
     Dosage: 24 MG, QD
     Route: 065
  692. ONDANSETRON [Suspect]
     Active Substance: ONDANSETRON
     Dosage: 24 MG, Q8H
     Route: 042
  693. ONDANSETRON [Suspect]
     Active Substance: ONDANSETRON
     Dosage: 24 MG, TID
     Route: 065
  694. ONDANSETRON [Suspect]
     Active Substance: ONDANSETRON
     Dosage: 36 G, Q8H
     Route: 042
  695. ONDANSETRON [Suspect]
     Active Substance: ONDANSETRON
     Dosage: 36 G, Q8H
     Route: 042
  696. ONDANSETRON [Suspect]
     Active Substance: ONDANSETRON
     Dosage: 36 MG, QD
     Route: 042
  697. ONDANSETRON [Suspect]
     Active Substance: ONDANSETRON
     Dosage: 36 MG, Q8H
     Route: 042
  698. ONDANSETRON [Suspect]
     Active Substance: ONDANSETRON
     Dosage: 4 MG, QD
     Route: 042
  699. ONDANSETRON [Suspect]
     Active Substance: ONDANSETRON
     Dosage: 4 MG, QD
     Route: 042
  700. ONDANSETRON [Suspect]
     Active Substance: ONDANSETRON
     Dosage: 4 MG, Q8H
     Route: 042
  701. ONDANSETRON [Suspect]
     Active Substance: ONDANSETRON
     Indication: Vomiting
     Dosage: 4 MG, TID
     Route: 042
  702. ONDANSETRON [Suspect]
     Active Substance: ONDANSETRON
     Dosage: 4 MG
     Route: 042
  703. ONDANSETRON [Suspect]
     Active Substance: ONDANSETRON
     Dosage: 4 MG
     Route: 065
  704. ONDANSETRON [Suspect]
     Active Substance: ONDANSETRON
     Dosage: 40 MG, Q8H
     Route: 042
  705. ONDANSETRON [Suspect]
     Active Substance: ONDANSETRON
     Dosage: 40 MG, Q8H
     Route: 042
  706. ONDANSETRON [Suspect]
     Active Substance: ONDANSETRON
     Dosage: 40 MG, Q8H
     Route: 042
  707. ONDANSETRON [Suspect]
     Active Substance: ONDANSETRON
     Dosage: 40 MG, Q8H
     Route: 042
  708. ONDANSETRON [Suspect]
     Active Substance: ONDANSETRON
     Dosage: 40 MG
     Route: 042
  709. ONDANSETRON [Suspect]
     Active Substance: ONDANSETRON
     Dosage: 41.14 MG, Q8H
     Route: 042
  710. ONDANSETRON [Suspect]
     Active Substance: ONDANSETRON
     Indication: Nausea
     Dosage: 41.14 MG
     Route: 065
  711. ONDANSETRON [Suspect]
     Active Substance: ONDANSETRON
     Dosage: 41.14 MG
     Route: 065
  712. ONDANSETRON [Suspect]
     Active Substance: ONDANSETRON
     Indication: Off label use
     Dosage: 41.4 MG, Q8H
     Route: 042
  713. ONDANSETRON [Suspect]
     Active Substance: ONDANSETRON
     Dosage: 41.8 MG, Q8H
     Route: 042
  714. ONDANSETRON [Suspect]
     Active Substance: ONDANSETRON
     Dosage: 60 MG
     Route: 065
  715. ONDANSETRON [Suspect]
     Active Substance: ONDANSETRON
     Dosage: 8 MG, Q8H
     Route: 065
  716. ONDANSETRON [Suspect]
     Active Substance: ONDANSETRON
     Dosage: 8 MG, TID
     Route: 042
  717. ONDANSETRON [Suspect]
     Active Substance: ONDANSETRON
     Dosage: 8 MG
     Route: 065
  718. ONDANSETRON [Suspect]
     Active Substance: ONDANSETRON
     Dosage: UNK
     Route: 065
  719. ONDANSETRON [Suspect]
     Active Substance: ONDANSETRON
     Dosage: UNK
     Route: 065
  720. OSELTAMIVIR [Suspect]
     Active Substance: OSELTAMIVIR
     Dosage: 12.5 G
     Route: 065
  721. OSELTAMIVIR [Suspect]
     Active Substance: OSELTAMIVIR
     Indication: Product used for unknown indication
     Dosage: 12.5 MG
     Route: 065
  722. OSELTAMIVIR PHOSPHATE [Suspect]
     Active Substance: OSELTAMIVIR PHOSPHATE
     Dosage: 12.5 MG
     Route: 065
  723. OSELTAMIVIR PHOSPHATE [Suspect]
     Active Substance: OSELTAMIVIR PHOSPHATE
     Dosage: 133 ML
     Route: 054
  724. OSELTAMIVIR PHOSPHATE [Suspect]
     Active Substance: OSELTAMIVIR PHOSPHATE
     Dosage: UNK
     Route: 065
  725. OSELTAMIVIR PHOSPHATE [Suspect]
     Active Substance: OSELTAMIVIR PHOSPHATE
     Indication: Chronic obstructive pulmonary disease
     Route: 054
  726. OTRIVIN [Suspect]
     Active Substance: XYLOMETAZOLINE
     Dosage: 1 DOSAGE FORM, QD
     Route: 065
  727. OTRIVIN [Suspect]
     Active Substance: XYLOMETAZOLINE
     Indication: Dyspnoea
     Dosage: UNK
     Route: 050
  728. OTRIVIN [Suspect]
     Active Substance: XYLOMETAZOLINE
     Dosage: UNK
     Route: 050
  729. OTRIVIN [Suspect]
     Active Substance: XYLOMETAZOLINE
     Dosage: UNK
     Route: 055
  730. OTRIVIN [Suspect]
     Active Substance: XYLOMETAZOLINE
     Dosage: UNK
     Route: 065
  731. POTASSIUM CHLORIDE [Suspect]
     Active Substance: POTASSIUM CHLORIDE
     Dosage: 17 G, QD
     Route: 048
  732. POTASSIUM CHLORIDE [Suspect]
     Active Substance: POTASSIUM CHLORIDE
     Dosage: 17 MG, QD
     Route: 048
  733. POTASSIUM CHLORIDE [Suspect]
     Active Substance: POTASSIUM CHLORIDE
     Dosage: 17 UG, QD
     Route: 048
  734. POTASSIUM CHLORIDE [Suspect]
     Active Substance: POTASSIUM CHLORIDE
     Indication: Constipation
     Dosage: UNK
     Route: 065
  735. POTASSIUM CHLORIDE [Suspect]
     Active Substance: POTASSIUM CHLORIDE
     Dosage: UNK
     Route: 065
  736. POTASSIUM CHLORIDE [Suspect]
     Active Substance: POTASSIUM CHLORIDE
     Dosage: UNK
     Route: 065
  737. POTASSIUM CHLORIDE [Suspect]
     Active Substance: POTASSIUM CHLORIDE
     Dosage: UNK
     Route: 065
  738. POTASSIUM CHLORIDE [Suspect]
     Active Substance: POTASSIUM CHLORIDE
     Dosage: UNK
     Route: 065
  739. POTASSIUM CHLORIDE [Suspect]
     Active Substance: POTASSIUM CHLORIDE
     Dosage: UNK
     Route: 065
  740. HERBALS [Suspect]
     Active Substance: HERBALS
     Indication: Nutritional supplementation
     Dosage: 12.5 MG
     Route: 042
  741. HERBALS [Suspect]
     Active Substance: HERBALS
     Dosage: UNK
     Route: 042
  742. HERBALS\PAULLINIA CUPANA SEED [Suspect]
     Active Substance: HERBALS\PAULLINIA CUPANA SEED
     Dosage: 12.5 MG
     Route: 042
  743. HERBALS\PAULLINIA CUPANA SEED [Suspect]
     Active Substance: HERBALS\PAULLINIA CUPANA SEED
     Dosage: 17 MG
     Route: 048
  744. HERBALS\PAULLINIA CUPANA SEED [Suspect]
     Active Substance: HERBALS\PAULLINIA CUPANA SEED
     Dosage: 17 MG
     Route: 065
  745. HERBALS\PAULLINIA CUPANA SEED [Suspect]
     Active Substance: HERBALS\PAULLINIA CUPANA SEED
     Dosage: 5 MG
     Route: 042
  746. HERBALS\PAULLINIA CUPANA SEED [Suspect]
     Active Substance: HERBALS\PAULLINIA CUPANA SEED
     Indication: Nutritional supplementation
     Route: 042
  747. POLYETHYLENE GLYCOL 3350 [Suspect]
     Active Substance: POLYETHYLENE GLYCOL 3350
     Dosage: 12.5 G
     Route: 042
  748. POLYETHYLENE GLYCOL 3350 [Suspect]
     Active Substance: POLYETHYLENE GLYCOL 3350
     Dosage: 17 G, QD
     Route: 048
  749. POLYETHYLENE GLYCOL 3350 [Suspect]
     Active Substance: POLYETHYLENE GLYCOL 3350
     Dosage: 17 MG, QD
     Route: 048
  750. POLYETHYLENE GLYCOL 3350 [Suspect]
     Active Substance: POLYETHYLENE GLYCOL 3350
     Dosage: 2.5 ML
     Route: 065
  751. POLYETHYLENE GLYCOL 3350 [Suspect]
     Active Substance: POLYETHYLENE GLYCOL 3350
     Indication: Constipation
     Dosage: 3 MG, QW
     Route: 048
  752. POLYETHYLENE GLYCOL 3350 [Suspect]
     Active Substance: POLYETHYLENE GLYCOL 3350
     Indication: Product used for unknown indication
     Dosage: 3 MG, QW
     Route: 065
  753. POLYETHYLENE GLYCOL 3350 [Suspect]
     Active Substance: POLYETHYLENE GLYCOL 3350
     Dosage: 3 MG
     Route: 048
  754. POLYETHYLENE GLYCOL 3350 [Suspect]
     Active Substance: POLYETHYLENE GLYCOL 3350
     Indication: Off label use
     Dosage: UNK, QD
     Route: 048
  755. POLYETHYLENE GLYCOL 3350 [Suspect]
     Active Substance: POLYETHYLENE GLYCOL 3350
     Dosage: UNK, QD
     Route: 048
  756. POLYETHYLENE GLYCOL 3350 [Suspect]
     Active Substance: POLYETHYLENE GLYCOL 3350
     Dosage: UNK
     Route: 042
  757. PHENOXYETHANOL [Suspect]
     Active Substance: PHENOXYETHANOL
     Indication: Nutritional supplementation
     Dosage: 17 G, QD
     Route: 065
  758. PHYTONADIONE [Suspect]
     Active Substance: PHYTONADIONE
     Dosage: 5 MG, QD
     Route: 042
  759. PHYTONADIONE [Suspect]
     Active Substance: PHYTONADIONE
     Dosage: 5 MG, QD(IC)
     Route: 065
  760. PHYTONADIONE [Suspect]
     Active Substance: PHYTONADIONE
     Indication: Vitamin supplementation
     Dosage: 5 MG
     Route: 042
  761. PHYTONADIONE [Suspect]
     Active Substance: PHYTONADIONE
     Dosage: 5 MG
     Route: 042
  762. PHYTONADIONE [Suspect]
     Active Substance: PHYTONADIONE
     Dosage: 5 MG
     Route: 065
  763. PHYTONADIONE [Suspect]
     Active Substance: PHYTONADIONE
     Indication: Off label use
     Dosage: 5 MG, PRN(IC)
     Route: 065
  764. PHYTONADIONE [Suspect]
     Active Substance: PHYTONADIONE
     Dosage: UNK
     Route: 042
  765. PHYTONADIONE [Suspect]
     Active Substance: PHYTONADIONE
     Dosage: UNK
     Route: 042
  766. PHYTONADIONE [Suspect]
     Active Substance: PHYTONADIONE
     Dosage: 5 MG, QD
     Route: 017
  767. PHYTONADIONE [Suspect]
     Active Substance: PHYTONADIONE
     Dosage: 5 MG, QD
     Route: 042
  768. PHYTONADIONE [Suspect]
     Active Substance: PHYTONADIONE
     Indication: Off label use
     Dosage: 5 MG
     Route: 042
  769. PHYTONADIONE [Suspect]
     Active Substance: PHYTONADIONE
     Dosage: 5 MG, PRN
     Route: 017
  770. PHYTONADIONE [Suspect]
     Active Substance: PHYTONADIONE
     Indication: Vitamin supplementation
     Dosage: 5 MG, PRN
     Route: 042
  771. NATAMYCIN [Suspect]
     Active Substance: NATAMYCIN
     Indication: Bacterial infection
     Route: 065
  772. POLYETHYLENE GLYCOL [Suspect]
     Active Substance: POLYETHYLENE GLYCOL
     Dosage: 1.0 DF, Q6H
     Route: 048
  773. POLYETHYLENE GLYCOL [Suspect]
     Active Substance: POLYETHYLENE GLYCOL
     Dosage: 1.0 DF, Q6H
     Route: 065
  774. POLYETHYLENE GLYCOL [Suspect]
     Active Substance: POLYETHYLENE GLYCOL
     Dosage: 17 G, QD
     Route: 048
  775. POLYETHYLENE GLYCOL [Suspect]
     Active Substance: POLYETHYLENE GLYCOL
     Dosage: 17 G
     Route: 065
  776. POLYETHYLENE GLYCOL [Suspect]
     Active Substance: POLYETHYLENE GLYCOL
     Dosage: 17 MG, QD
     Route: 048
  777. POLYETHYLENE GLYCOL [Suspect]
     Active Substance: POLYETHYLENE GLYCOL
     Indication: Constipation
     Dosage: 17 MG
     Route: 048
  778. POLYETHYLENE GLYCOL [Suspect]
     Active Substance: POLYETHYLENE GLYCOL
     Dosage: 2.5 MG
     Route: 065
  779. POLYETHYLENE GLYCOL [Suspect]
     Active Substance: POLYETHYLENE GLYCOL
     Dosage: 2.5 ML
     Route: 065
  780. POLYETHYLENE GLYCOL [Suspect]
     Active Substance: POLYETHYLENE GLYCOL
     Dosage: 3.0 G QD
     Route: 048
  781. POLYETHYLENE GLYCOL [Suspect]
     Active Substance: POLYETHYLENE GLYCOL
     Dosage: 3.0 G QD EOW
     Route: 065
  782. POLYETHYLENE GLYCOL [Suspect]
     Active Substance: POLYETHYLENE GLYCOL
     Dosage: 5 MG
     Route: 065
  783. POLYETHYLENE GLYCOL [Suspect]
     Active Substance: POLYETHYLENE GLYCOL
     Indication: Iron deficiency
     Dosage: UNK
     Route: 065
  784. POLYETHYLENE GLYCOL [Suspect]
     Active Substance: POLYETHYLENE GLYCOL
     Dosage: UNK
     Route: 065
  785. POLYETHYLENE GLYCOL [Suspect]
     Active Substance: POLYETHYLENE GLYCOL
     Dosage: UNK G
     Route: 065
  786. POLYETHYLENE GLYCOL 4000 [Suspect]
     Active Substance: POLYETHYLENE GLYCOL 4000
     Dosage: 1 DF, Q6H
     Route: 065
  787. POLYETHYLENE GLYCOL 4000 [Suspect]
     Active Substance: POLYETHYLENE GLYCOL 4000
     Indication: Iron deficiency
     Dosage: 17 G, QD
     Route: 048
  788. POLYETHYLENE GLYCOL 4000 [Suspect]
     Active Substance: POLYETHYLENE GLYCOL 4000
     Dosage: 17 G, QD
     Route: 048
  789. POLYETHYLENE GLYCOL 4000 [Suspect]
     Active Substance: POLYETHYLENE GLYCOL 4000
     Dosage: 17 G, QD
     Route: 048
  790. POLYETHYLENE GLYCOL 4000 [Suspect]
     Active Substance: POLYETHYLENE GLYCOL 4000
     Dosage: 17 G
     Route: 048
  791. POLYETHYLENE GLYCOL 4000 [Suspect]
     Active Substance: POLYETHYLENE GLYCOL 4000
     Dosage: 17 MG, QD
     Route: 048
  792. POLYETHYLENE GLYCOL 4000 [Suspect]
     Active Substance: POLYETHYLENE GLYCOL 4000
     Dosage: 2.5 MG
     Route: 042
  793. POLYETHYLENE GLYCOL 4000 [Suspect]
     Active Substance: POLYETHYLENE GLYCOL 4000
     Dosage: 2.5 ML
     Route: 042
  794. POLYETHYLENE GLYCOL 4000 [Suspect]
     Active Substance: POLYETHYLENE GLYCOL 4000
     Dosage: 3 G, QW
     Route: 065
  795. POLYETHYLENE GLYCOL 4000 [Suspect]
     Active Substance: POLYETHYLENE GLYCOL 4000
     Dosage: 3 G
     Route: 048
  796. POLYETHYLENE GLYCOL 4000 [Suspect]
     Active Substance: POLYETHYLENE GLYCOL 4000
     Dosage: 3 MG
     Route: 048
  797. POLYETHYLENE GLYCOL 4000 [Suspect]
     Active Substance: POLYETHYLENE GLYCOL 4000
     Dosage: 5 MG
     Route: 065
  798. POLYETHYLENE GLYCOL 4000 [Suspect]
     Active Substance: POLYETHYLENE GLYCOL 4000
     Indication: Constipation
     Dosage: UNK
     Route: 048
  799. POLYETHYLENE GLYCOL 4000 [Suspect]
     Active Substance: POLYETHYLENE GLYCOL 4000
     Dosage: UNK, QD
     Route: 048
  800. POTASSIUM CHLORATE [Suspect]
     Active Substance: POTASSIUM CHLORATE
     Indication: Product used for unknown indication
     Dosage: 17 MG, QD
     Route: 048
  801. POTASSIUM CHLORATE [Suspect]
     Active Substance: POTASSIUM CHLORATE
     Dosage: UNK
     Route: 065
  802. POTASSIUM PERCHLORATE [Suspect]
     Active Substance: POTASSIUM PERCHLORATE
     Indication: Product used for unknown indication
     Dosage: 17 MG, QD
     Route: 048
  803. POTASSIUM PERCHLORATE [Suspect]
     Active Substance: POTASSIUM PERCHLORATE
     Dosage: 17 MG, QD
     Route: 048
  804. POTASSIUM PERCHLORATE [Suspect]
     Active Substance: POTASSIUM PERCHLORATE
     Dosage: UNK
     Route: 065
  805. POTASSIUM PERCHLORATE [Suspect]
     Active Substance: POTASSIUM PERCHLORATE
     Dosage: UNK
     Route: 065
  806. PREVACID [Suspect]
     Active Substance: LANSOPRAZOLE
     Dosage: 30 MG, QD
     Route: 048
  807. PREVACID [Suspect]
     Active Substance: LANSOPRAZOLE
     Indication: Antacid therapy
     Dosage: 30 MG, QD
     Route: 065
  808. PREVACID [Suspect]
     Active Substance: LANSOPRAZOLE
     Dosage: 30 MG
     Route: 065
  809. PREVACID [Suspect]
     Active Substance: LANSOPRAZOLE
     Dosage: 30 MG
     Route: 065
  810. PREVACID [Suspect]
     Active Substance: LANSOPRAZOLE
     Dosage: 30 MG
     Route: 065
  811. PREVACID [Suspect]
     Active Substance: LANSOPRAZOLE
     Dosage: 30 MG, QD
     Route: 065
  812. PREVACID [Suspect]
     Active Substance: LANSOPRAZOLE
     Dosage: UNK, Q6H
     Route: 055
  813. PREVACID [Suspect]
     Active Substance: LANSOPRAZOLE
     Dosage: UNK
     Route: 042
  814. PREVACID [Suspect]
     Active Substance: LANSOPRAZOLE
     Dosage: UNK
     Route: 048
  815. PREVACID [Suspect]
     Active Substance: LANSOPRAZOLE
     Dosage: UNK
     Route: 048
  816. PROPYLENE GLYCOL [Suspect]
     Active Substance: PROPYLENE GLYCOL
     Indication: Product used for unknown indication
     Dosage: UNK
     Route: 065
  817. PYRIDOXINE HYDROCHLORIDE [Suspect]
     Active Substance: PYRIDOXINE HYDROCHLORIDE
     Dosage: 10 MG
     Route: 048
  818. PYRIDOXINE HYDROCHLORIDE [Suspect]
     Active Substance: PYRIDOXINE HYDROCHLORIDE
     Dosage: 10 MG
     Route: 048
  819. PYRIDOXINE HYDROCHLORIDE [Suspect]
     Active Substance: PYRIDOXINE HYDROCHLORIDE
     Indication: Vitamin supplementation
     Dosage: 10 MG
     Route: 065
  820. PYRIDOXINE HYDROCHLORIDE [Suspect]
     Active Substance: PYRIDOXINE HYDROCHLORIDE
     Indication: Product used for unknown indication
     Dosage: UNK, QD
     Route: 048
  821. PYRIDOXINE HYDROCHLORIDE [Suspect]
     Active Substance: PYRIDOXINE HYDROCHLORIDE
     Dosage: UNK, QD
     Route: 048
  822. PYRIDOXINE HYDROCHLORIDE [Suspect]
     Active Substance: PYRIDOXINE HYDROCHLORIDE
     Indication: Constipation
     Dosage: UNK, QID
     Route: 048
  823. PYRIDOXINE HYDROCHLORIDE [Suspect]
     Active Substance: PYRIDOXINE HYDROCHLORIDE
     Dosage: UNK
     Route: 048
  824. PYRIDOXINE HYDROCHLORIDE [Suspect]
     Active Substance: PYRIDOXINE HYDROCHLORIDE
     Dosage: UNK
     Route: 048
  825. PYRIDOXINE HYDROCHLORIDE [Suspect]
     Active Substance: PYRIDOXINE HYDROCHLORIDE
     Dosage: UNK
     Route: 065
  826. PYRIDOXINE HYDROCHLORIDE [Suspect]
     Active Substance: PYRIDOXINE HYDROCHLORIDE
     Dosage: UNK
     Route: 065
  827. PYRIDOXINE HYDROCHLORIDE [Suspect]
     Active Substance: PYRIDOXINE HYDROCHLORIDE
     Dosage: UNK, 4 EVERY 1 DAYS
     Route: 048
  828. PYRIDOXINE HYDROCHLORIDE [Suspect]
     Active Substance: PYRIDOXINE HYDROCHLORIDE
     Dosage: UNK, QD
     Route: 048
  829. PYRIDOXINE HYDROCHLORIDE [Suspect]
     Active Substance: PYRIDOXINE HYDROCHLORIDE
     Indication: Analgesic therapy
     Dosage: UNK,4 EVERY 1 DAYS
     Route: 048
  830. ISOPROPYL MYRISTATE [Suspect]
     Active Substance: ISOPROPYL MYRISTATE
     Indication: Constipation
     Route: 065
  831. VITAMIN A PALMITATE [Suspect]
     Active Substance: VITAMIN A PALMITATE
     Indication: Constipation
     Dosage: 17 G, QD
     Route: 065
  832. RIBOFLAVIN [Suspect]
     Active Substance: RIBOFLAVIN
     Dosage: 17 G
     Route: 065
  833. RIBOFLAVIN [Suspect]
     Active Substance: RIBOFLAVIN
     Indication: Product used for unknown indication
     Dosage: UNK
     Route: 065
  834. ALBUTEROL [Suspect]
     Active Substance: ALBUTEROL
     Dosage: 1 DOSAGE FORM, Q6H
     Route: 055
  835. ALBUTEROL [Suspect]
     Active Substance: ALBUTEROL
     Dosage: 1 DF
     Route: 055
  836. ALBUTEROL [Suspect]
     Active Substance: ALBUTEROL
     Dosage: 1 DF, 4 EVERY 1 DAY
     Route: 055
  837. ALBUTEROL [Suspect]
     Active Substance: ALBUTEROL
     Dosage: 1 DF, 4 EVERY 1 DAY
     Route: 055
  838. ALBUTEROL [Suspect]
     Active Substance: ALBUTEROL
     Dosage: 4 DF, QD
     Route: 055
  839. ALBUTEROL [Suspect]
     Active Substance: ALBUTEROL
     Dosage: 4 DOSAGE FORM, QD
     Route: 055
  840. ALBUTEROL [Suspect]
     Active Substance: ALBUTEROL
     Dosage: 4 DOSAGE FORM, QD
     Route: 055
  841. ALBUTEROL [Suspect]
     Active Substance: ALBUTEROL
     Dosage: 4 DOSAGE FORM, QD
     Route: 055
  842. ALBUTEROL [Suspect]
     Active Substance: ALBUTEROL
     Dosage: 4 DOSAGE FORM, Q6H
     Route: 055
  843. ALBUTEROL [Suspect]
     Active Substance: ALBUTEROL
     Dosage: 1 DF, 4 EVERY 1 DAY
     Route: 055
  844. ALBUTEROL [Suspect]
     Active Substance: ALBUTEROL
     Dosage: 4 DF
     Route: 055
  845. ALBUTEROL [Suspect]
     Active Substance: ALBUTEROL
     Dosage: UNK, QD
     Route: 065
  846. ALBUTEROL [Suspect]
     Active Substance: ALBUTEROL
     Indication: Intentional product misuse
     Dosage: UNK, Q6H
     Route: 055
  847. ALBUTEROL [Suspect]
     Active Substance: ALBUTEROL
     Dosage: UNK, Q6H
     Route: 055
  848. ALBUTEROL [Suspect]
     Active Substance: ALBUTEROL
     Dosage: UNK, Q6H
     Route: 065
  849. ALBUTEROL [Suspect]
     Active Substance: ALBUTEROL
     Indication: Chronic obstructive pulmonary disease
     Dosage: UNK UNK, QID
     Route: 045
  850. ALBUTEROL [Suspect]
     Active Substance: ALBUTEROL
     Dosage: UNK UNK, QID (1 EVERY 6 HOURS)
     Route: 055
  851. ALBUTEROL [Suspect]
     Active Substance: ALBUTEROL
     Dosage: UNK
     Route: 050
  852. ALBUTEROL [Suspect]
     Active Substance: ALBUTEROL
     Indication: Off label use
     Dosage: UNK
     Route: 055
  853. ALBUTEROL [Suspect]
     Active Substance: ALBUTEROL
     Dosage: UNK
     Route: 055
  854. ALBUTEROL [Suspect]
     Active Substance: ALBUTEROL
     Dosage: UNK
     Route: 065
  855. ALBUTEROL [Suspect]
     Active Substance: ALBUTEROL
     Dosage: UNK
     Route: 065
  856. ALBUTEROL [Suspect]
     Active Substance: ALBUTEROL
     Dosage: UNK, 4 EVERY 1 DAYS
     Route: 050
  857. ALBUTEROL [Suspect]
     Active Substance: ALBUTEROL
     Dosage: UNK, 4 EVERY 1 DAYS
     Route: 055
  858. SIMVASTATIN [Suspect]
     Active Substance: SIMVASTATIN
     Indication: Off label use
     Dosage: 40 MG, QD
     Route: 048
  859. SIMVASTATIN [Suspect]
     Active Substance: SIMVASTATIN
     Indication: Intentional product misuse
     Dosage: 40 MG
     Route: 048
  860. SIMVASTATIN [Suspect]
     Active Substance: SIMVASTATIN
     Indication: Vitamin supplementation
     Dosage: 40 MG
     Route: 048
  861. SIMVASTATIN [Suspect]
     Active Substance: SIMVASTATIN
     Indication: Blood cholesterol increased
     Dosage: UNK
     Route: 048
  862. SIMVASTATIN [Suspect]
     Active Substance: SIMVASTATIN
     Indication: Product used for unknown indication
     Dosage: UNK
     Route: 048
  863. HERBALS [Suspect]
     Active Substance: HERBALS
     Indication: Constipation
     Route: 065
  864. SODIUM [Suspect]
     Active Substance: SODIUM
     Indication: Iron deficiency
     Dosage: 4.64 MG, 1 EVERY 4 WEEKS
     Route: 042
  865. SODIUM FERRIC GLUCONATE COMPLEX [Suspect]
     Active Substance: SODIUM FERRIC GLUCONATE COMPLEX
     Dosage: 1.25 MG, QW
     Route: 042
  866. SODIUM FERRIC GLUCONATE COMPLEX [Suspect]
     Active Substance: SODIUM FERRIC GLUCONATE COMPLEX
     Dosage: 125 MG, QMO
     Route: 042
  867. SODIUM FERRIC GLUCONATE COMPLEX [Suspect]
     Active Substance: SODIUM FERRIC GLUCONATE COMPLEX
     Indication: Product used for unknown indication
     Dosage: 125 MG, QW
     Route: 042
  868. SODIUM FERRIC GLUCONATE COMPLEX [Suspect]
     Active Substance: SODIUM FERRIC GLUCONATE COMPLEX
     Dosage: 125 MG, QD
     Route: 042
  869. SODIUM FERRIC GLUCONATE COMPLEX [Suspect]
     Active Substance: SODIUM FERRIC GLUCONATE COMPLEX
     Dosage: 125 MG, Q4W
     Route: 042
  870. SODIUM FERRIC GLUCONATE COMPLEX [Suspect]
     Active Substance: SODIUM FERRIC GLUCONATE COMPLEX
     Dosage: 125 MG, Q4W
     Route: 042
  871. SODIUM FERRIC GLUCONATE COMPLEX [Suspect]
     Active Substance: SODIUM FERRIC GLUCONATE COMPLEX
     Indication: Iron deficiency
     Dosage: 125 MG, Q4W (1 EVERY 1 MONTHS)
     Route: 042
  872. SODIUM FERRIC GLUCONATE COMPLEX [Suspect]
     Active Substance: SODIUM FERRIC GLUCONATE COMPLEX
     Dosage: 17.85 MG, QW
     Route: 042
  873. SODIUM FERRIC GLUCONATE COMPLEX [Suspect]
     Active Substance: SODIUM FERRIC GLUCONATE COMPLEX
     Dosage: 17.85 MG
     Route: 042
  874. SODIUM FERRIC GLUCONATE COMPLEX [Suspect]
     Active Substance: SODIUM FERRIC GLUCONATE COMPLEX
     Dosage: 4.64 MG, Q4W
     Route: 017
  875. SODIUM FERRIC GLUCONATE COMPLEX [Suspect]
     Active Substance: SODIUM FERRIC GLUCONATE COMPLEX
     Dosage: 4.64 MG, Q4W
     Route: 042
  876. SODIUM FERRIC GLUCONATE COMPLEX [Suspect]
     Active Substance: SODIUM FERRIC GLUCONATE COMPLEX
     Dosage: 4.64 MG, Q4W
     Route: 042
  877. SODIUM FERRIC GLUCONATE COMPLEX [Suspect]
     Active Substance: SODIUM FERRIC GLUCONATE COMPLEX
     Dosage: UNK
     Route: 042
  878. SODIUM FERRIC GLUCONATE COMPLEX [Suspect]
     Active Substance: SODIUM FERRIC GLUCONATE COMPLEX
     Dosage: UNK
     Route: 042
  879. SODIUM ASCORBATE [Suspect]
     Active Substance: SODIUM ASCORBATE
     Indication: Product used for unknown indication
     Route: 065
  880. SODIUM ASCORBATE [Suspect]
     Active Substance: SODIUM ASCORBATE
     Indication: Product used for unknown indication
     Route: 065
  881. SODIUM BICARBONATE [Suspect]
     Active Substance: SODIUM BICARBONATE
     Dosage: 12.5 G
     Route: 065
  882. SODIUM BICARBONATE [Suspect]
     Active Substance: SODIUM BICARBONATE
     Indication: Nutritional supplementation
     Dosage: UNK
     Route: 065
  883. SODIUM CHLORIDE [Suspect]
     Active Substance: SODIUM CHLORIDE
     Indication: Nutritional supplementation
     Dosage: UNK
     Route: 055
  884. DEXTROSE\SODIUM CHLORIDE [Suspect]
     Active Substance: DEXTROSE\SODIUM CHLORIDE
     Dosage: 12.5 MG, QD
     Route: 042
  885. DEXTROSE\SODIUM CHLORIDE [Suspect]
     Active Substance: DEXTROSE\SODIUM CHLORIDE
     Indication: Nutritional supplementation
     Dosage: UNK
     Route: 042
  886. SODIUM CITRATE [Suspect]
     Active Substance: SODIUM CITRATE
     Indication: Anticoagulant therapy
     Dosage: 2. G, QD
     Route: 065
  887. SODIUM CITRATE [Suspect]
     Active Substance: SODIUM CITRATE
     Dosage: 2 G
     Route: 065
  888. SODIUM CITRATE [Suspect]
     Active Substance: SODIUM CITRATE
     Indication: Thrombosis
     Dosage: 2.5 MG, QD
     Route: 065
  889. SODIUM CITRATE [Suspect]
     Active Substance: SODIUM CITRATE
     Dosage: 2.5 ML, QD
     Route: 065
  890. SODIUM CITRATE [Suspect]
     Active Substance: SODIUM CITRATE
     Dosage: 2.5 ML
     Route: 065
  891. SODIUM PHOSPHATE [Suspect]
     Active Substance: SODIUM PHOSPHATE
     Indication: Constipation
     Dosage: 133 ML (FORMULATION: SOLUTION)
     Route: 054
  892. SODIUM PHOSPHATE [Suspect]
     Active Substance: SODIUM PHOSPHATE
     Dosage: 133 ML (FORMULATION: SOLUTION)
     Route: 054
  893. SODIUM PHOSPHATE, MONOBASIC [Suspect]
     Active Substance: SODIUM PHOSPHATE, MONOBASIC
     Dosage: 133 ML
     Route: 054
  894. SODIUM PHOSPHATE, MONOBASIC [Suspect]
     Active Substance: SODIUM PHOSPHATE, MONOBASIC
     Dosage: 133 ML
     Route: 054
  895. SODIUM PHOSPHATE, MONOBASIC [Suspect]
     Active Substance: SODIUM PHOSPHATE, MONOBASIC
     Dosage: 133 ML
     Route: 054
  896. SODIUM PHOSPHATE, MONOBASIC [Suspect]
     Active Substance: SODIUM PHOSPHATE, MONOBASIC
     Dosage: 133 ML
     Route: 054
  897. SODIUM PHOSPHATE, MONOBASIC [Suspect]
     Active Substance: SODIUM PHOSPHATE, MONOBASIC
     Indication: Constipation
     Dosage: 133 ML, PRN
     Route: 054
  898. SODIUM PICOSULFATE [Suspect]
     Active Substance: SODIUM PICOSULFATE
     Dosage: 10 MG
     Route: 054
  899. SODIUM PICOSULFATE [Suspect]
     Active Substance: SODIUM PICOSULFATE
     Dosage: 10 MG
     Route: 065
  900. SODIUM PICOSULFATE [Suspect]
     Active Substance: SODIUM PICOSULFATE
     Dosage: 10 MG
     Route: 065
  901. SODIUM PICOSULFATE [Suspect]
     Active Substance: SODIUM PICOSULFATE
     Dosage: 10 MG, PRN
     Route: 054
  902. SODIUM PICOSULFATE [Suspect]
     Active Substance: SODIUM PICOSULFATE
     Dosage: 10 MG, PRN
     Route: 054
  903. SODIUM PICOSULFATE [Suspect]
     Active Substance: SODIUM PICOSULFATE
     Indication: Analgesic therapy
     Dosage: 10 MG, PRN
     Route: 065
  904. SODIUM PICOSULFATE [Suspect]
     Active Substance: SODIUM PICOSULFATE
     Indication: Constipation
     Dosage: 10 MG, PRN
     Route: 065
  905. SODIUM PICOSULFATE [Suspect]
     Active Substance: SODIUM PICOSULFATE
     Dosage: 10 MG, PRN
     Route: 065
  906. SODIUM PICOSULFATE [Suspect]
     Active Substance: SODIUM PICOSULFATE
     Dosage: UNK, QMO
     Route: 065
  907. SODIUM PICOSULFATE [Suspect]
     Active Substance: SODIUM PICOSULFATE
     Dosage: UNK
     Route: 065
  908. SUCROSE [Suspect]
     Active Substance: SUCROSE
     Dosage: 12 MG, 1 EVERY 1 MONTHS
     Route: 065
  909. SUCROSE [Suspect]
     Active Substance: SUCROSE
     Indication: Iron deficiency
     Dosage: 125 MG, Q4W
     Route: 065
  910. SUCROSE [Suspect]
     Active Substance: SUCROSE
     Dosage: 125 MG
     Route: 065
  911. SUCROSE [Suspect]
     Active Substance: SUCROSE
     Dosage: 4.464 MG, QD
     Route: 042
  912. TAMIFLU [Suspect]
     Active Substance: OSELTAMIVIR PHOSPHATE
     Indication: Product used for unknown indication
     Dosage: UNK (NOT SPECIFIED)
     Route: 065
  913. THEOPHYLLINE [Suspect]
     Active Substance: THEOPHYLLINE
     Indication: Product used for unknown indication
     Dosage: UNK
     Route: 065
  914. THEOPHYLLINE [Suspect]
     Active Substance: THEOPHYLLINE
     Dosage: UNK
     Route: 065
  915. TRELEGY ELLIPTA [Suspect]
     Active Substance: FLUTICASONE FUROATE\UMECLIDINIUM BROMIDE\VILANTEROL TRIFENATATE
     Indication: Product used for unknown indication
     Route: 055
  916. TRESIBA [Suspect]
     Active Substance: INSULIN DEGLUDEC
     Dosage: 1 DOSAGE FORM, QD
     Route: 058
  917. TRESIBA [Suspect]
     Active Substance: INSULIN DEGLUDEC
     Dosage: 1 DOSAGE FORM, QD
     Route: 058
  918. TRESIBA [Suspect]
     Active Substance: INSULIN DEGLUDEC
     Dosage: 1 DOSAGE FORM, QD
     Route: 065
  919. TRESIBA [Suspect]
     Active Substance: INSULIN DEGLUDEC
     Dosage: 1 DF
     Route: 058
  920. TRESIBA [Suspect]
     Active Substance: INSULIN DEGLUDEC
     Dosage: UNK
     Route: 055
  921. TRESIBA [Suspect]
     Active Substance: INSULIN DEGLUDEC
     Indication: Diabetes mellitus
     Dosage: UNK
     Route: 058
  922. TRESIBA [Suspect]
     Active Substance: INSULIN DEGLUDEC
     Dosage: UNK
     Route: 058
  923. TRESIBA [Suspect]
     Active Substance: INSULIN DEGLUDEC
     Dosage: UNK
     Route: 058
  924. TRESIBA [Suspect]
     Active Substance: INSULIN DEGLUDEC
     Dosage: UNK
     Route: 058
  925. TRESIBA [Suspect]
     Active Substance: INSULIN DEGLUDEC
     Indication: Product used for unknown indication
     Dosage: UNK
     Route: 065
  926. TRESIBA [Suspect]
     Active Substance: INSULIN DEGLUDEC
     Dosage: UNK
     Route: 065
  927. TRESIBA [Suspect]
     Active Substance: INSULIN DEGLUDEC
     Dosage: UNK
     Route: 065
  928. UMECLIDINIUM BROMIDE [Suspect]
     Active Substance: UMECLIDINIUM BROMIDE
     Dosage: 1 IU
     Route: 048
  929. UMECLIDINIUM BROMIDE [Suspect]
     Active Substance: UMECLIDINIUM BROMIDE
     Dosage: 1 IU
     Route: 048
  930. UMECLIDINIUM BROMIDE [Suspect]
     Active Substance: UMECLIDINIUM BROMIDE
     Dosage: 1 IU
     Route: 048
  931. UMECLIDINIUM BROMIDE [Suspect]
     Active Substance: UMECLIDINIUM BROMIDE
     Dosage: 1 IU
     Route: 048
  932. UMECLIDINIUM BROMIDE [Suspect]
     Active Substance: UMECLIDINIUM BROMIDE
     Dosage: 1 IU, QD
     Route: 048
  933. UMECLIDINIUM BROMIDE [Suspect]
     Active Substance: UMECLIDINIUM BROMIDE
     Dosage: 1 IU
     Route: 048
  934. UMECLIDINIUM BROMIDE [Suspect]
     Active Substance: UMECLIDINIUM BROMIDE
     Dosage: UNK
     Route: 065
  935. UMECLIDINIUM BROMIDE [Suspect]
     Active Substance: UMECLIDINIUM BROMIDE
     Dosage: UNK
     Route: 065
  936. UMECLIDINIUM BROMIDE [Suspect]
     Active Substance: UMECLIDINIUM BROMIDE
     Indication: Dyspnoea
     Route: 048
  937. VASOPRESSIN [Suspect]
     Active Substance: VASOPRESSIN
     Indication: Drug therapy
     Dosage: UNK
     Route: 042
  938. VITAMIN C [Suspect]
     Active Substance: ASCORBIC ACID
     Indication: Constipation
     Dosage: 17 G, QD (TABLET)
     Route: 048
  939. VITAMIN C [Suspect]
     Active Substance: ASCORBIC ACID
     Dosage: UNK
     Route: 065
  940. VITAMIN C [Suspect]
     Active Substance: ASCORBIC ACID
     Dosage: UNK
     Route: 065
  941. VITAMIN K1 [Suspect]
     Active Substance: PHYTONADIONE
     Dosage: 5 MG, QD
     Route: 017
  942. VITAMIN K1 [Suspect]
     Active Substance: PHYTONADIONE
     Dosage: 5 MG, QD
     Route: 042
  943. VITAMIN K1 [Suspect]
     Active Substance: PHYTONADIONE
     Dosage: 5 MG, QD
     Route: 042
  944. VITAMIN K1 [Suspect]
     Active Substance: PHYTONADIONE
     Dosage: 5 MG
     Route: 042
  945. VITAMIN K1 [Suspect]
     Active Substance: PHYTONADIONE
     Dosage: 5 MG
     Route: 042
  946. VITAMIN K1 [Suspect]
     Active Substance: PHYTONADIONE
     Dosage: 5 MG, PRN
     Route: 017
  947. VITAMIN K1 [Suspect]
     Active Substance: PHYTONADIONE
     Indication: Vitamin supplementation
     Dosage: UNK
     Route: 065
  948. VILANTEROL TRIFENATATE [Suspect]
     Active Substance: VILANTEROL TRIFENATATE
     Dosage: 1 IU, QD
     Route: 048
  949. VILANTEROL TRIFENATATE [Suspect]
     Active Substance: VILANTEROL TRIFENATATE
     Indication: Product used for unknown indication
     Dosage: 1 IU, QD
     Route: 048
  950. VILANTEROL TRIFENATATE [Suspect]
     Active Substance: VILANTEROL TRIFENATATE
     Dosage: 1 IU, QD
     Route: 048
  951. VILANTEROL TRIFENATATE [Suspect]
     Active Substance: VILANTEROL TRIFENATATE
     Indication: Dyspnoea
     Dosage: UNK
     Route: 065
  952. VILANTEROL TRIFENATATE [Suspect]
     Active Substance: VILANTEROL TRIFENATATE
     Dosage: UNK
     Route: 065
  953. VILANTEROL TRIFENATATE [Suspect]
     Active Substance: VILANTEROL TRIFENATATE
     Dosage: UNK
     Route: 065
  954. VILANTEROL TRIFENATATE [Suspect]
     Active Substance: VILANTEROL TRIFENATATE
     Dosage: UNK
     Route: 065
  955. VILANTEROL TRIFENATATE [Suspect]
     Active Substance: VILANTEROL TRIFENATATE
     Dosage: UNK
     Route: 065
  956. VILANTEROL TRIFENATATE [Suspect]
     Active Substance: VILANTEROL TRIFENATATE
     Dosage: UNK
     Route: 065
  957. VILANTEROL TRIFENATATE [Suspect]
     Active Substance: VILANTEROL TRIFENATATE
     Dosage: UNK
     Route: 065
  958. VILANTEROL TRIFENATATE [Suspect]
     Active Substance: VILANTEROL TRIFENATATE
     Dosage: UNK
     Route: 065
  959. VITAMIN E [Suspect]
     Active Substance: .ALPHA.-TOCOPHEROL
     Indication: Nutritional supplementation
     Dosage: 12.5 G, QD
     Route: 042
  960. VITAMIN E [Suspect]
     Active Substance: .ALPHA.-TOCOPHEROL
     Dosage: 12.5 G, QD
     Route: 042
  961. VITAMIN E [Suspect]
     Active Substance: .ALPHA.-TOCOPHEROL
     Dosage: 12.5 G
     Route: 042
  962. VITAMIN B6 [Suspect]
     Active Substance: PYRIDOXINE HYDROCHLORIDE
     Indication: Analgesic therapy
     Dosage: 10 MG
     Route: 048
  963. VITAMIN B6 [Suspect]
     Active Substance: PYRIDOXINE HYDROCHLORIDE
     Dosage: 10 MG
     Route: 048
  964. VITAMIN B6 [Suspect]
     Active Substance: PYRIDOXINE HYDROCHLORIDE
     Dosage: 10 MG
     Route: 048
  965. VITAMIN B6 [Suspect]
     Active Substance: PYRIDOXINE HYDROCHLORIDE
     Dosage: 10 MG
     Route: 048
  966. VITAMIN B6 [Suspect]
     Active Substance: PYRIDOXINE HYDROCHLORIDE
     Indication: Constipation
     Dosage: UNK, QD
     Route: 048
  967. VITAMIN B6 [Suspect]
     Active Substance: PYRIDOXINE HYDROCHLORIDE
     Dosage: UNK, Q6H
     Route: 048
  968. VITAMIN B6 [Suspect]
     Active Substance: PYRIDOXINE HYDROCHLORIDE
     Dosage: UNK, Q6H
     Route: 048
  969. VITAMIN B6 [Suspect]
     Active Substance: PYRIDOXINE HYDROCHLORIDE
     Dosage: UNK, Q6H
     Route: 048
  970. VITAMIN B6 [Suspect]
     Active Substance: PYRIDOXINE HYDROCHLORIDE
     Indication: Vitamin supplementation
     Dosage: UNK
     Route: 048
  971. VITAMIN B6 [Suspect]
     Active Substance: PYRIDOXINE HYDROCHLORIDE
     Dosage: UNK
     Route: 048
  972. VITAMIN B6 [Suspect]
     Active Substance: PYRIDOXINE HYDROCHLORIDE
     Dosage: UNK
     Route: 048
  973. VITAMIN B6 [Suspect]
     Active Substance: PYRIDOXINE HYDROCHLORIDE
     Dosage: UNK
     Route: 048
  974. VITAMIN B6 [Suspect]
     Active Substance: PYRIDOXINE HYDROCHLORIDE
     Dosage: UNK
     Route: 048
  975. VITAMIN B6 [Suspect]
     Active Substance: PYRIDOXINE HYDROCHLORIDE
     Dosage: UNK
     Route: 048
  976. VITAMIN B6 [Suspect]
     Active Substance: PYRIDOXINE HYDROCHLORIDE
     Dosage: UNK
     Route: 065
  977. VITAMIN B6 [Suspect]
     Active Substance: PYRIDOXINE HYDROCHLORIDE
     Dosage: UNK
     Route: 065
  978. VITAMIN E [Suspect]
     Active Substance: .ALPHA.-TOCOPHEROL
     Dosage: 12.5 G, QD
     Route: 042
  979. VITAMIN E [Suspect]
     Active Substance: .ALPHA.-TOCOPHEROL
     Dosage: 12.5 G
     Route: 042
  980. VITAMIN E [Suspect]
     Active Substance: .ALPHA.-TOCOPHEROL
     Indication: Constipation
     Dosage: UNK
     Route: 065
  981. VITAMIN E [Suspect]
     Active Substance: .ALPHA.-TOCOPHEROL
     Indication: Nutritional supplementation
     Route: 042
  982. WARFARIN [Suspect]
     Active Substance: WARFARIN
     Indication: Thrombosis
     Dosage: 2 G, QD
     Route: 048
  983. WARFARIN [Suspect]
     Active Substance: WARFARIN
     Indication: Product used for unknown indication
     Dosage: 2 MG, QD
     Route: 048
  984. WARFARIN [Suspect]
     Active Substance: WARFARIN
     Dosage: 2 MG, QD
     Route: 048
  985. WARFARIN [Suspect]
     Active Substance: WARFARIN
     Dosage: 2 MG
     Route: 048
  986. WARFARIN [Suspect]
     Active Substance: WARFARIN
     Indication: Off label use
     Dosage: 2 ML, QD
     Route: 048
  987. WARFARIN [Suspect]
     Active Substance: WARFARIN
     Dosage: 2 ML, QD
     Route: 048
  988. WARFARIN [Suspect]
     Active Substance: WARFARIN
     Indication: Intentional product misuse
     Dosage: UNK
     Route: 048
  989. WARFARIN [Suspect]
     Active Substance: WARFARIN
     Dosage: UNK
     Route: 048
  990. WARFARIN SODIUM [Suspect]
     Active Substance: WARFARIN SODIUM
     Indication: Thrombosis
     Dosage: 2 G, QD
     Route: 048
  991. WARFARIN SODIUM [Suspect]
     Active Substance: WARFARIN SODIUM
     Dosage: 2 G, QD
     Route: 048
  992. WARFARIN SODIUM [Suspect]
     Active Substance: WARFARIN SODIUM
     Dosage: 2 G, QD
     Route: 048
  993. WARFARIN SODIUM [Suspect]
     Active Substance: WARFARIN SODIUM
     Dosage: 2 MG, QD
     Route: 048
  994. WARFARIN SODIUM [Suspect]
     Active Substance: WARFARIN SODIUM
     Dosage: 2 MG
     Route: 048
  995. WARFARIN SODIUM [Suspect]
     Active Substance: WARFARIN SODIUM
     Dosage: 2 ML, QD
     Route: 048
  996. WARFARIN SODIUM [Suspect]
     Active Substance: WARFARIN SODIUM
     Dosage: UNK
     Route: 048
  997. WARFARIN SODIUM [Suspect]
     Active Substance: WARFARIN SODIUM
     Dosage: UNK
     Route: 065
  998. WARFARIN SODIUM [Suspect]
     Active Substance: WARFARIN SODIUM
     Dosage: UNK
     Route: 065
  999. XANTOFYL PALMITATE [Suspect]
     Active Substance: XANTOFYL PALMITATE
     Dosage: 12.5 G
     Route: 042
  1000. XANTOFYL PALMITATE [Suspect]
     Active Substance: XANTOFYL PALMITATE
     Dosage: 12.5 G
     Route: 065
  1001. XANTOFYL PALMITATE [Suspect]
     Active Substance: XANTOFYL PALMITATE
     Dosage: 12.5 G, PRN
     Route: 048
  1002. XANTOFYL PALMITATE [Suspect]
     Active Substance: XANTOFYL PALMITATE
     Dosage: 5 MG
     Route: 042
  1003. XANTOFYL PALMITATE [Suspect]
     Active Substance: XANTOFYL PALMITATE
     Dosage: UNK
     Route: 042
  1004. XANTOFYL PALMITATE [Suspect]
     Active Substance: XANTOFYL PALMITATE
     Indication: Nutritional supplementation
     Dosage: UNK
     Route: 065
  1005. XYLOMETAZOLINE HYDROCHLORIDE [Suspect]
     Active Substance: XYLOMETAZOLINE HYDROCHLORIDE
     Dosage: 1 DOSAGE FORM, QD
     Route: 065
  1006. XYLOMETAZOLINE HYDROCHLORIDE [Suspect]
     Active Substance: XYLOMETAZOLINE HYDROCHLORIDE
     Dosage: UNK
     Route: 050
  1007. XYLOMETAZOLINE HYDROCHLORIDE [Suspect]
     Active Substance: XYLOMETAZOLINE HYDROCHLORIDE
     Indication: Dyspnoea
     Dosage: UNK
     Route: 055
  1008. XYLOMETAZOLINE HYDROCHLORIDE [Suspect]
     Active Substance: XYLOMETAZOLINE HYDROCHLORIDE
     Dosage: UNK
     Route: 065
  1009. ZOCOR [Suspect]
     Active Substance: SIMVASTATIN
     Indication: Off label use
     Dosage: 40 MG, QD
     Route: 048
  1010. ZOCOR [Suspect]
     Active Substance: SIMVASTATIN
     Indication: Vitamin supplementation
     Dosage: 40 MG, QD
     Route: 048
  1011. ZOCOR [Suspect]
     Active Substance: SIMVASTATIN
     Indication: Blood cholesterol increased
     Dosage: UNK
     Route: 065
  1012. ZOCOR [Suspect]
     Active Substance: SIMVASTATIN
     Dosage: UNK
     Route: 065
  1013. ZOCOR [Suspect]
     Active Substance: SIMVASTATIN
     Dosage: UNK
     Route: 065
  1014. AMLODIPINE [Concomitant]
     Active Substance: AMLODIPINE BESYLATE
     Indication: Analgesic therapy
     Dosage: UNK
     Route: 065
  1015. AMLODIPINE [Concomitant]
     Active Substance: AMLODIPINE BESYLATE
     Dosage: UNK
     Route: 065
  1016. AMLODIPINE MESYLATE [Concomitant]
     Active Substance: AMLODIPINE MESYLATE
     Indication: Product used for unknown indication
     Dosage: UNK, QD
     Route: 065
  1017. CALCIUM GLUCONATE [Concomitant]
     Active Substance: CALCIUM GLUCONATE
     Indication: Product used for unknown indication
     Dosage: UNK
     Route: 065
  1018. HYDROMORPHONE HYDROCHLORIDE [Concomitant]
     Active Substance: HYDROMORPHONE HYDROCHLORIDE
     Dosage: 1 MG, Q6H
     Route: 065
  1019. HYDROMORPHONE HYDROCHLORIDE [Concomitant]
     Active Substance: HYDROMORPHONE HYDROCHLORIDE
     Dosage: 1 MG (1 EVERY 4 DAY)
     Route: 065
  1020. HYDROMORPHONE HYDROCHLORIDE [Concomitant]
     Active Substance: HYDROMORPHONE HYDROCHLORIDE
     Dosage: 24 MG, Q4H
     Route: 065
  1021. HYDROMORPHONE HYDROCHLORIDE [Concomitant]
     Active Substance: HYDROMORPHONE HYDROCHLORIDE
     Dosage: 24 MG, Q6H
     Route: 065
  1022. HYDROMORPHONE HYDROCHLORIDE [Concomitant]
     Active Substance: HYDROMORPHONE HYDROCHLORIDE
     Dosage: 24 MG (1 EVERY 4 DAYS)
     Route: 065
  1023. HYDROMORPHONE HYDROCHLORIDE [Concomitant]
     Active Substance: HYDROMORPHONE HYDROCHLORIDE
     Dosage: 4 MG, Q4H
     Route: 065
  1024. HYDROMORPHONE HYDROCHLORIDE [Concomitant]
     Active Substance: HYDROMORPHONE HYDROCHLORIDE
     Dosage: 6 MG, Q4H
     Route: 065
  1025. HYDROMORPHONE HYDROCHLORIDE [Concomitant]
     Active Substance: HYDROMORPHONE HYDROCHLORIDE
     Indication: Analgesic therapy
     Dosage: 6 MG, Q6H
     Route: 065
  1026. HYDROMORPHONE HYDROCHLORIDE [Concomitant]
     Active Substance: HYDROMORPHONE HYDROCHLORIDE
     Dosage: 6 MG, Q6H
     Route: 065
  1027. HYDROMORPHONE HYDROCHLORIDE [Concomitant]
     Active Substance: HYDROMORPHONE HYDROCHLORIDE
     Dosage: 6 MG
     Route: 065
  1028. HYDROMORPHONE HYDROCHLORIDE [Concomitant]
     Active Substance: HYDROMORPHONE HYDROCHLORIDE
     Dosage: 6 MG (1 EVERY 4 DAYS)
     Route: 065
  1029. INSULIN NOS [Concomitant]
     Active Substance: INSULIN NOS
     Indication: Diabetes mellitus
     Dosage: UNK (GLOBULES ORAL)
     Route: 048
  1030. SIMVASTATIN [Concomitant]
     Active Substance: SIMVASTATIN
     Indication: Vitamin supplementation
     Dosage: 40 MG, QD
     Route: 065
  1031. SIMVASTATIN [Concomitant]
     Active Substance: SIMVASTATIN
     Dosage: 40 MG, QD
     Route: 065
  1032. SIMVASTATIN [Concomitant]
     Active Substance: SIMVASTATIN
     Dosage: 40 MG, QD
     Route: 065
  1033. SIMVASTATIN [Concomitant]
     Active Substance: SIMVASTATIN
     Dosage: 40 MG, QD
     Route: 065
  1034. SIMVASTATIN [Concomitant]
     Active Substance: SIMVASTATIN
     Dosage: 40 MG, QD
     Route: 065
  1035. SIMVASTATIN [Concomitant]
     Active Substance: SIMVASTATIN
     Dosage: 40 MG, QD
     Route: 065
  1036. SIMVASTATIN [Concomitant]
     Active Substance: SIMVASTATIN
     Indication: Blood cholesterol increased
     Dosage: UNK
     Route: 065
  1037. SIMVASTATIN [Concomitant]
     Active Substance: SIMVASTATIN
     Dosage: UNK
     Route: 065
  1038. SIMVASTATIN [Concomitant]
     Active Substance: SIMVASTATIN
     Dosage: UNK
     Route: 065
  1039. VASOPRESSIN [Concomitant]
     Active Substance: VASOPRESSIN
     Indication: Drug therapy
     Dosage: 1 IU, QD
     Route: 065
  1040. VASOPRESSIN [Concomitant]
     Active Substance: VASOPRESSIN
     Dosage: 250 ML, QD
     Route: 065
  1041. VASOPRESSIN [Concomitant]
     Active Substance: VASOPRESSIN
     Dosage: 250 ML, QD
     Route: 065
  1042. VASOPRESSIN [Concomitant]
     Active Substance: VASOPRESSIN
     Dosage: 50 ML, QD
     Route: 065
  1043. VASOPRESSIN [Concomitant]
     Active Substance: VASOPRESSIN
     Dosage: 50 ML, QD
     Route: 065
  1044. VASOPRESSIN [Concomitant]
     Active Substance: VASOPRESSIN
     Dosage: UNK
     Route: 065
  1045. VASOPRESSIN [Concomitant]
     Active Substance: VASOPRESSIN
     Dosage: UNK
     Route: 065
  1046. VASOPRESSIN [Concomitant]
     Active Substance: VASOPRESSIN
     Dosage: UNK
     Route: 065
  1047. VASOPRESSIN [Concomitant]
     Active Substance: VASOPRESSIN
     Dosage: UNK
     Route: 065
  1048. VASOPRESSIN [Concomitant]
     Active Substance: VASOPRESSIN
     Dosage: UNK
     Route: 065
  1049. VASOPRESSIN [Concomitant]
     Active Substance: VASOPRESSIN
     Dosage: UNK
     Route: 065
  1050. VASOPRESSIN [Concomitant]
     Active Substance: VASOPRESSIN
     Dosage: UNK
     Route: 065
  1051. VASOPRESSIN [Concomitant]
     Active Substance: VASOPRESSIN
     Dosage: UNK
     Route: 065
  1052. VASOPRESSIN [Concomitant]
     Active Substance: VASOPRESSIN
     Dosage: UNK
     Route: 065
  1053. VASOPRESSIN [Concomitant]
     Active Substance: VASOPRESSIN
     Dosage: UNK
     Route: 065
  1054. VASOPRESSIN [Concomitant]
     Active Substance: VASOPRESSIN
     Dosage: UNK
     Route: 065
  1055. VASOPRESSIN [Concomitant]
     Active Substance: VASOPRESSIN
     Dosage: UNK
     Route: 065
  1056. VITAMIN C [Concomitant]
     Active Substance: ASCORBIC ACID
     Indication: Product used for unknown indication
     Route: 065
  1057. VITAMIN D3 [Concomitant]
     Active Substance: CHOLECALCIFEROL
     Indication: Product used for unknown indication
     Dosage: UNK
     Route: 065

REACTIONS (51)
  - Abdominal distension [Fatal]
  - Abdominal pain [Fatal]
  - Appendicitis [Fatal]
  - Appendicolith [Fatal]
  - Cardiogenic shock [Fatal]
  - Constipation [Fatal]
  - Ascites [Fatal]
  - General physical health deterioration [Fatal]
  - Hyponatraemia [Fatal]
  - Multiple organ dysfunction syndrome [Fatal]
  - Nausea [Fatal]
  - Sepsis [Fatal]
  - Stress [Fatal]
  - Ventricular fibrillation [Fatal]
  - Vomiting [Fatal]
  - Blood phosphorus increased [Fatal]
  - Condition aggravated [Fatal]
  - Somnolence [Fatal]
  - Dry mouth [Fatal]
  - Thrombosis [Fatal]
  - Chronic obstructive pulmonary disease [Fatal]
  - Drug intolerance [Fatal]
  - Hyperphosphataemia [Fatal]
  - Swelling [Fatal]
  - Dyspnoea [Fatal]
  - Anaemia [Fatal]
  - Bacterial infection [Fatal]
  - Blood cholesterol increased [Fatal]
  - Blood uric acid increased [Fatal]
  - Diabetes mellitus [Fatal]
  - Drug hypersensitivity [Fatal]
  - Hypophosphataemia [Fatal]
  - Iron deficiency [Fatal]
  - Myasthenia gravis [Fatal]
  - Neuralgia [Fatal]
  - Pulmonary embolism [Fatal]
  - Sleep disorder [Fatal]
  - Vomiting [Fatal]
  - Analgesic therapy [Fatal]
  - End stage renal disease [Fatal]
  - Activated partial thromboplastin time prolonged [Fatal]
  - Aortic stenosis [Fatal]
  - Hyperlipidaemia [Fatal]
  - Gout [Fatal]
  - Ulcer [Fatal]
  - Sleep disorder therapy [Fatal]
  - Off label use [Fatal]
  - Intentional product misuse [Fatal]
  - Product use in unapproved indication [Fatal]
  - Incorrect route of product administration [Fatal]
  - Drug ineffective [Fatal]
